FAERS Safety Report 23333834 (Version 41)
Quarter: 2025Q3

REPORT INFORMATION
  Report Type: Spontaneous
  Country: CA (occurrence: CA)
  Receive Date: 20231223
  Receipt Date: 20250926
  Transmission Date: 20251021
  Serious: Yes (Death, Life-Threatening, Hospitalization, Disabling, Congenital Anomaly, Other)
  Sender: CELLTRION
  Company Number: CA-CELLTRION INC.-2023CA024546

PATIENT

DRUGS (1063)
  1. INFLIXIMAB [Suspect]
     Active Substance: INFLIXIMAB
     Indication: Rheumatoid arthritis
     Route: 042
  2. INFLIXIMAB [Suspect]
     Active Substance: INFLIXIMAB
  3. INFLIXIMAB [Suspect]
     Active Substance: INFLIXIMAB
     Route: 065
  4. INFLIXIMAB [Suspect]
     Active Substance: INFLIXIMAB
     Route: 042
  5. INFLIXIMAB [Suspect]
     Active Substance: INFLIXIMAB
     Route: 065
  6. INFLIXIMAB [Suspect]
     Active Substance: INFLIXIMAB
     Route: 042
  7. INFLIXIMAB [Suspect]
     Active Substance: INFLIXIMAB
     Route: 042
  8. INFLIXIMAB [Suspect]
     Active Substance: INFLIXIMAB
     Route: 065
  9. ENBREL [Suspect]
     Active Substance: ETANERCEPT
     Indication: Rheumatoid arthritis
     Dosage: 50 MILLIGRAM, QWK
     Route: 058
  10. ENBREL [Suspect]
     Active Substance: ETANERCEPT
     Indication: Psoriatic arthropathy
  11. ENBREL [Suspect]
     Active Substance: ETANERCEPT
     Dosage: 1 DF, WEEKLY
  12. ENBREL [Suspect]
     Active Substance: ETANERCEPT
     Route: 048
  13. ENBREL [Suspect]
     Active Substance: ETANERCEPT
  14. ENBREL [Suspect]
     Active Substance: ETANERCEPT
     Dosage: 50 MILLIGRAM, WEEKLY
     Route: 058
  15. ENBREL [Suspect]
     Active Substance: ETANERCEPT
  16. ENBREL [Suspect]
     Active Substance: ETANERCEPT
     Dosage: 50 MILLIGRAM,WEEKLY
     Route: 058
  17. ENBREL [Suspect]
     Active Substance: ETANERCEPT
  18. ENBREL [Suspect]
     Active Substance: ETANERCEPT
  19. ENBREL [Suspect]
     Active Substance: ETANERCEPT
  20. ENBREL [Suspect]
     Active Substance: ETANERCEPT
     Dosage: 50 MILLIGRAM,WEEKLY
     Route: 058
  21. ENBREL [Suspect]
     Active Substance: ETANERCEPT
  22. ENBREL [Suspect]
     Active Substance: ETANERCEPT
     Dosage: 50 MILLIGRAM,WEEKLY
     Route: 058
  23. ENBREL [Suspect]
     Active Substance: ETANERCEPT
     Route: 058
  24. ENBREL [Suspect]
     Active Substance: ETANERCEPT
     Route: 058
  25. ENBREL [Suspect]
     Active Substance: ETANERCEPT
     Route: 058
  26. ENBREL [Suspect]
     Active Substance: ETANERCEPT
     Dosage: 20 MG, WEEKLY
     Route: 058
  27. ENBREL [Suspect]
     Active Substance: ETANERCEPT
     Route: 058
  28. ENBREL [Suspect]
     Active Substance: ETANERCEPT
     Route: 058
  29. ENBREL [Suspect]
     Active Substance: ETANERCEPT
  30. ENBREL [Suspect]
     Active Substance: ETANERCEPT
     Route: 058
  31. ENBREL [Suspect]
     Active Substance: ETANERCEPT
     Dosage: 50 MG, WEEKLY
     Route: 058
  32. ENBREL [Suspect]
     Active Substance: ETANERCEPT
     Dosage: 20 MG, WEEKLY
     Route: 058
  33. ENBREL [Suspect]
     Active Substance: ETANERCEPT
     Route: 058
  34. ENBREL [Suspect]
     Active Substance: ETANERCEPT
     Route: 058
  35. ENBREL [Suspect]
     Active Substance: ETANERCEPT
     Route: 048
  36. ENBREL [Suspect]
     Active Substance: ETANERCEPT
     Route: 065
  37. ENBREL [Suspect]
     Active Substance: ETANERCEPT
     Route: 058
  38. ENBREL [Suspect]
     Active Substance: ETANERCEPT
     Route: 058
  39. ENBREL [Suspect]
     Active Substance: ETANERCEPT
     Route: 058
  40. ENBREL [Suspect]
     Active Substance: ETANERCEPT
     Route: 058
  41. ENBREL [Suspect]
     Active Substance: ETANERCEPT
     Route: 065
  42. ENBREL [Suspect]
     Active Substance: ETANERCEPT
     Route: 058
  43. ENBREL [Suspect]
     Active Substance: ETANERCEPT
     Dosage: 1 DOSAGE FORM, QWK
     Route: 065
  44. ENBREL [Suspect]
     Active Substance: ETANERCEPT
     Route: 065
  45. ENBREL [Suspect]
     Active Substance: ETANERCEPT
     Dosage: 20 MILLIGRAM, QWK
     Route: 065
  46. XELJANZ [Suspect]
     Active Substance: TOFACITINIB CITRATE
     Indication: Psoriatic arthropathy
  47. XELJANZ [Suspect]
     Active Substance: TOFACITINIB CITRATE
     Route: 048
  48. XELJANZ [Suspect]
     Active Substance: TOFACITINIB CITRATE
     Dosage: 5 MG, WEEKLY
     Route: 048
  49. XELJANZ [Suspect]
     Active Substance: TOFACITINIB CITRATE
  50. XELJANZ [Suspect]
     Active Substance: TOFACITINIB CITRATE
  51. XELJANZ [Suspect]
     Active Substance: TOFACITINIB CITRATE
  52. XELJANZ [Suspect]
     Active Substance: TOFACITINIB CITRATE
  53. XELJANZ [Suspect]
     Active Substance: TOFACITINIB CITRATE
     Route: 048
  54. XELJANZ [Suspect]
     Active Substance: TOFACITINIB CITRATE
  55. XELJANZ [Suspect]
     Active Substance: TOFACITINIB CITRATE
     Route: 048
  56. XELJANZ [Suspect]
     Active Substance: TOFACITINIB CITRATE
  57. XELJANZ [Suspect]
     Active Substance: TOFACITINIB CITRATE
     Dosage: 5 MG, WEEKLY
  58. XELJANZ [Suspect]
     Active Substance: TOFACITINIB CITRATE
  59. XELJANZ [Suspect]
     Active Substance: TOFACITINIB CITRATE
     Route: 048
  60. XELJANZ [Suspect]
     Active Substance: TOFACITINIB CITRATE
     Dosage: 5 MG, WEEKLY
     Route: 048
  61. XELJANZ [Suspect]
     Active Substance: TOFACITINIB CITRATE
  62. XELJANZ [Suspect]
     Active Substance: TOFACITINIB CITRATE
  63. XELJANZ [Suspect]
     Active Substance: TOFACITINIB CITRATE
  64. XELJANZ [Suspect]
     Active Substance: TOFACITINIB CITRATE
     Route: 048
  65. XELJANZ [Suspect]
     Active Substance: TOFACITINIB CITRATE
     Route: 048
  66. XELJANZ [Suspect]
     Active Substance: TOFACITINIB CITRATE
     Route: 048
  67. XELJANZ [Suspect]
     Active Substance: TOFACITINIB CITRATE
     Route: 048
  68. ADALIMUMAB [Suspect]
     Active Substance: ADALIMUMAB
     Indication: Rheumatoid arthritis
     Route: 058
  69. ADALIMUMAB [Suspect]
     Active Substance: ADALIMUMAB
     Indication: Psoriatic arthropathy
     Route: 065
  70. ADALIMUMAB [Suspect]
     Active Substance: ADALIMUMAB
     Route: 048
  71. ADALIMUMAB [Suspect]
     Active Substance: ADALIMUMAB
     Route: 058
  72. ADALIMUMAB [Suspect]
     Active Substance: ADALIMUMAB
  73. ADALIMUMAB [Suspect]
     Active Substance: ADALIMUMAB
     Route: 058
  74. ADALIMUMAB [Suspect]
     Active Substance: ADALIMUMAB
     Route: 042
  75. ADALIMUMAB [Suspect]
     Active Substance: ADALIMUMAB
     Route: 016
  76. ADALIMUMAB [Suspect]
     Active Substance: ADALIMUMAB
     Route: 058
  77. ADALIMUMAB [Suspect]
     Active Substance: ADALIMUMAB
     Route: 065
  78. BUPIVACAINE HYDROCHLORIDE [Suspect]
     Active Substance: BUPIVACAINE HYDROCHLORIDE
  79. CELECOXIB [Suspect]
     Active Substance: CELECOXIB
     Indication: Rheumatoid arthritis
     Route: 048
  80. CELECOXIB [Suspect]
     Active Substance: CELECOXIB
     Indication: Arthritis
     Route: 048
  81. CELECOXIB [Suspect]
     Active Substance: CELECOXIB
     Route: 048
  82. CELECOXIB [Suspect]
     Active Substance: CELECOXIB
     Route: 048
  83. CELECOXIB [Suspect]
     Active Substance: CELECOXIB
     Route: 048
  84. CELECOXIB [Suspect]
     Active Substance: CELECOXIB
     Route: 048
  85. CELECOXIB [Suspect]
     Active Substance: CELECOXIB
  86. CELECOXIB [Suspect]
     Active Substance: CELECOXIB
     Route: 048
  87. CELECOXIB [Suspect]
     Active Substance: CELECOXIB
     Route: 058
  88. CELECOXIB [Suspect]
     Active Substance: CELECOXIB
  89. CELECOXIB [Suspect]
     Active Substance: CELECOXIB
     Route: 048
  90. CELECOXIB [Suspect]
     Active Substance: CELECOXIB
     Route: 065
  91. DOXYCYCLINE HYCLATE [Suspect]
     Active Substance: DOXYCYCLINE HYCLATE
  92. ETHINYL ESTRADIOL\NORETHINDRONE [Suspect]
     Active Substance: ETHINYL ESTRADIOL\NORETHINDRONE
     Route: 048
  93. HYDROCORTISONE [Suspect]
     Active Substance: HYDROCORTISONE
     Indication: Rheumatoid arthritis
  94. HYDROCORTISONE [Suspect]
     Active Substance: HYDROCORTISONE
     Route: 048
  95. HYDROCORTISONE [Suspect]
     Active Substance: HYDROCORTISONE
     Route: 058
  96. HYDROCORTISONE [Suspect]
     Active Substance: HYDROCORTISONE
     Route: 061
  97. HYDROCORTISONE SODIUM SUCCINATE [Suspect]
     Active Substance: HYDROCORTISONE SODIUM SUCCINATE
     Indication: Rheumatoid arthritis
  98. METHOTREXATE SODIUM [Suspect]
     Active Substance: METHOTREXATE SODIUM
     Indication: Rheumatoid arthritis
  99. METHOTREXATE SODIUM [Suspect]
     Active Substance: METHOTREXATE SODIUM
     Dosage: 25 MG QW
     Route: 048
  100. METHOTREXATE SODIUM [Suspect]
     Active Substance: METHOTREXATE SODIUM
     Route: 058
  101. METHOTREXATE SODIUM [Suspect]
     Active Substance: METHOTREXATE SODIUM
     Route: 048
  102. METHOTREXATE SODIUM [Suspect]
     Active Substance: METHOTREXATE SODIUM
     Route: 048
  103. METHOTREXATE SODIUM [Suspect]
     Active Substance: METHOTREXATE SODIUM
     Route: 048
  104. METHOTREXATE SODIUM [Suspect]
     Active Substance: METHOTREXATE SODIUM
     Dosage: 25 MG, WEEKLY
     Route: 013
  105. METHOTREXATE SODIUM [Suspect]
     Active Substance: METHOTREXATE SODIUM
  106. METHOTREXATE SODIUM [Suspect]
     Active Substance: METHOTREXATE SODIUM
     Route: 048
  107. METHOTREXATE SODIUM [Suspect]
     Active Substance: METHOTREXATE SODIUM
     Dosage: 20 MG, WEEKLY
     Route: 048
  108. METHOTREXATE SODIUM [Suspect]
     Active Substance: METHOTREXATE SODIUM
     Route: 048
  109. METHOTREXATE SODIUM [Suspect]
     Active Substance: METHOTREXATE SODIUM
     Route: 058
  110. METHOTREXATE SODIUM [Suspect]
     Active Substance: METHOTREXATE SODIUM
     Route: 048
  111. METHOTREXATE SODIUM [Suspect]
     Active Substance: METHOTREXATE SODIUM
  112. METHOTREXATE SODIUM [Suspect]
     Active Substance: METHOTREXATE SODIUM
     Route: 048
  113. METHOTREXATE SODIUM [Suspect]
     Active Substance: METHOTREXATE SODIUM
     Route: 048
  114. METHOTREXATE SODIUM [Suspect]
     Active Substance: METHOTREXATE SODIUM
     Route: 048
  115. METHOTREXATE SODIUM [Suspect]
     Active Substance: METHOTREXATE SODIUM
  116. METHOTREXATE SODIUM [Suspect]
     Active Substance: METHOTREXATE SODIUM
  117. METHOTREXATE SODIUM [Suspect]
     Active Substance: METHOTREXATE SODIUM
     Route: 048
  118. METHOTREXATE SODIUM [Suspect]
     Active Substance: METHOTREXATE SODIUM
  119. METHOTREXATE SODIUM [Suspect]
     Active Substance: METHOTREXATE SODIUM
     Route: 048
  120. METHOTREXATE SODIUM [Suspect]
     Active Substance: METHOTREXATE SODIUM
     Route: 048
  121. METHOTREXATE SODIUM [Suspect]
     Active Substance: METHOTREXATE SODIUM
     Route: 013
  122. METHOTREXATE SODIUM [Suspect]
     Active Substance: METHOTREXATE SODIUM
  123. METHOTREXATE SODIUM [Suspect]
     Active Substance: METHOTREXATE SODIUM
     Dosage: 25 MG, WEEKLY
  124. METHOTREXATE SODIUM [Suspect]
     Active Substance: METHOTREXATE SODIUM
  125. METHOTREXATE SODIUM [Suspect]
     Active Substance: METHOTREXATE SODIUM
     Route: 048
  126. METHOTREXATE SODIUM [Suspect]
     Active Substance: METHOTREXATE SODIUM
     Route: 065
  127. METHOTREXATE SODIUM [Suspect]
     Active Substance: METHOTREXATE SODIUM
     Route: 048
  128. METHOTREXATE SODIUM [Suspect]
     Active Substance: METHOTREXATE SODIUM
     Route: 065
  129. METHOTREXATE SODIUM [Suspect]
     Active Substance: METHOTREXATE SODIUM
     Route: 065
  130. METHOTREXATE SODIUM [Suspect]
     Active Substance: METHOTREXATE SODIUM
     Route: 065
  131. METHOTREXATE SODIUM [Suspect]
     Active Substance: METHOTREXATE SODIUM
     Route: 048
  132. METHOTREXATE SODIUM [Suspect]
     Active Substance: METHOTREXATE SODIUM
     Route: 065
  133. METHOTREXATE SODIUM [Suspect]
     Active Substance: METHOTREXATE SODIUM
     Route: 048
  134. METHOTREXATE SODIUM [Suspect]
     Active Substance: METHOTREXATE SODIUM
     Route: 048
  135. METHOTREXATE SODIUM [Suspect]
     Active Substance: METHOTREXATE SODIUM
     Route: 048
  136. METHYLPREDNISOLONE SODIUM SUCCINATE [Suspect]
     Active Substance: METHYLPREDNISOLONE SODIUM SUCCINATE
     Route: 065
  137. PREGABALIN [Suspect]
     Active Substance: PREGABALIN
  138. PANTOPRAZOLE [Suspect]
     Active Substance: PANTOPRAZOLE
  139. PANTOPRAZOLE [Suspect]
     Active Substance: PANTOPRAZOLE
  140. PANTOPRAZOLE [Suspect]
     Active Substance: PANTOPRAZOLE
  141. PANTOPRAZOLE [Suspect]
     Active Substance: PANTOPRAZOLE
  142. PANTOPRAZOLE [Suspect]
     Active Substance: PANTOPRAZOLE
  143. PANTOPRAZOLE [Suspect]
     Active Substance: PANTOPRAZOLE
  144. PANTOPRAZOLE [Suspect]
     Active Substance: PANTOPRAZOLE
  145. PANTOPRAZOLE [Suspect]
     Active Substance: PANTOPRAZOLE
  146. PANTOPRAZOLE [Suspect]
     Active Substance: PANTOPRAZOLE
  147. PHENYLEPHRINE HYDROCHLORIDE [Suspect]
     Active Substance: PHENYLEPHRINE HYDROCHLORIDE
     Indication: Rheumatoid arthritis
     Route: 030
  148. PHENYLEPHRINE HYDROCHLORIDE [Suspect]
     Active Substance: PHENYLEPHRINE HYDROCHLORIDE
     Route: 065
  149. PHENYLEPHRINE HYDROCHLORIDE [Suspect]
     Active Substance: PHENYLEPHRINE HYDROCHLORIDE
     Route: 065
  150. PHENYLEPHRINE HYDROCHLORIDE [Suspect]
     Active Substance: PHENYLEPHRINE HYDROCHLORIDE
     Route: 065
  151. PHENYLEPHRINE HYDROCHLORIDE [Suspect]
     Active Substance: PHENYLEPHRINE HYDROCHLORIDE
     Route: 042
  152. PHENYLEPHRINE HYDROCHLORIDE [Suspect]
     Active Substance: PHENYLEPHRINE HYDROCHLORIDE
     Route: 065
  153. PHENYLEPHRINE HYDROCHLORIDE [Suspect]
     Active Substance: PHENYLEPHRINE HYDROCHLORIDE
     Route: 065
  154. PHENYLEPHRINE HYDROCHLORIDE [Suspect]
     Active Substance: PHENYLEPHRINE HYDROCHLORIDE
     Route: 058
  155. SULFASALAZINE [Suspect]
     Active Substance: SULFASALAZINE
     Indication: Rheumatoid arthritis
     Route: 048
  156. SULFASALAZINE [Suspect]
     Active Substance: SULFASALAZINE
     Route: 048
  157. SULFASALAZINE [Suspect]
     Active Substance: SULFASALAZINE
  158. SULFASALAZINE [Suspect]
     Active Substance: SULFASALAZINE
  159. SULFASALAZINE [Suspect]
     Active Substance: SULFASALAZINE
     Route: 065
  160. SULFASALAZINE [Suspect]
     Active Substance: SULFASALAZINE
  161. SULFASALAZINE [Suspect]
     Active Substance: SULFASALAZINE
  162. SULFASALAZINE [Suspect]
     Active Substance: SULFASALAZINE
     Route: 048
  163. SULFASALAZINE [Suspect]
     Active Substance: SULFASALAZINE
     Route: 048
  164. SULFASALAZINE [Suspect]
     Active Substance: SULFASALAZINE
  165. SULFASALAZINE [Suspect]
     Active Substance: SULFASALAZINE
     Route: 048
  166. SULFASALAZINE [Suspect]
     Active Substance: SULFASALAZINE
  167. SULFASALAZINE [Suspect]
     Active Substance: SULFASALAZINE
     Route: 048
  168. SULFASALAZINE [Suspect]
     Active Substance: SULFASALAZINE
     Route: 048
  169. SULFASALAZINE [Suspect]
     Active Substance: SULFASALAZINE
     Route: 048
  170. SULFASALAZINE [Suspect]
     Active Substance: SULFASALAZINE
     Route: 048
  171. SULFASALAZINE [Suspect]
     Active Substance: SULFASALAZINE
     Route: 016
  172. SULFASALAZINE [Suspect]
     Active Substance: SULFASALAZINE
  173. SULFASALAZINE [Suspect]
     Active Substance: SULFASALAZINE
     Route: 048
  174. SULFASALAZINE [Suspect]
     Active Substance: SULFASALAZINE
     Route: 048
  175. SULFASALAZINE [Suspect]
     Active Substance: SULFASALAZINE
     Route: 048
  176. SULFASALAZINE [Suspect]
     Active Substance: SULFASALAZINE
     Route: 048
  177. SULFASALAZINE [Suspect]
     Active Substance: SULFASALAZINE
     Route: 058
  178. SULFASALAZINE [Suspect]
     Active Substance: SULFASALAZINE
  179. SULFASALAZINE [Suspect]
     Active Substance: SULFASALAZINE
     Route: 048
  180. SULFASALAZINE [Suspect]
     Active Substance: SULFASALAZINE
  181. SULFASALAZINE [Suspect]
     Active Substance: SULFASALAZINE
  182. SULFASALAZINE [Suspect]
     Active Substance: SULFASALAZINE
  183. SULFASALAZINE [Suspect]
     Active Substance: SULFASALAZINE
     Route: 048
  184. SULFASALAZINE [Suspect]
     Active Substance: SULFASALAZINE
     Route: 048
  185. SULFASALAZINE [Suspect]
     Active Substance: SULFASALAZINE
     Route: 048
  186. SULFASALAZINE [Suspect]
     Active Substance: SULFASALAZINE
     Route: 058
  187. SULFASALAZINE [Suspect]
     Active Substance: SULFASALAZINE
     Route: 058
  188. SULFASALAZINE [Suspect]
     Active Substance: SULFASALAZINE
     Route: 058
  189. SULFASALAZINE [Suspect]
     Active Substance: SULFASALAZINE
     Route: 058
  190. SULFASALAZINE [Suspect]
     Active Substance: SULFASALAZINE
     Route: 058
  191. SULFASALAZINE [Suspect]
     Active Substance: SULFASALAZINE
     Route: 058
  192. SULFASALAZINE [Suspect]
     Active Substance: SULFASALAZINE
  193. SULFASALAZINE [Suspect]
     Active Substance: SULFASALAZINE
     Route: 065
  194. SULFASALAZINE [Suspect]
     Active Substance: SULFASALAZINE
     Route: 048
  195. SULFASALAZINE [Suspect]
     Active Substance: SULFASALAZINE
     Route: 048
  196. SULFASALAZINE [Suspect]
     Active Substance: SULFASALAZINE
     Route: 048
  197. SULFASALAZINE [Suspect]
     Active Substance: SULFASALAZINE
     Route: 065
  198. SULFASALAZINE [Suspect]
     Active Substance: SULFASALAZINE
     Route: 048
  199. SULFASALAZINE [Suspect]
     Active Substance: SULFASALAZINE
     Route: 048
  200. SULFASALAZINE [Suspect]
     Active Substance: SULFASALAZINE
     Route: 048
  201. SULFASALAZINE [Suspect]
     Active Substance: SULFASALAZINE
     Route: 048
  202. SULFASALAZINE [Suspect]
     Active Substance: SULFASALAZINE
     Route: 048
  203. ACTEMRA [Suspect]
     Active Substance: TOCILIZUMAB
     Indication: Rheumatoid arthritis
     Route: 065
     Dates: end: 201511
  204. ACTEMRA [Suspect]
     Active Substance: TOCILIZUMAB
     Dosage: UNK, WEEKLY
     Route: 042
  205. ACTEMRA [Suspect]
     Active Substance: TOCILIZUMAB
     Route: 058
  206. ACTEMRA [Suspect]
     Active Substance: TOCILIZUMAB
     Route: 042
  207. ACTEMRA [Suspect]
     Active Substance: TOCILIZUMAB
     Route: 042
  208. ACTEMRA [Suspect]
     Active Substance: TOCILIZUMAB
     Dosage: 2912 MG, WEEKLY
     Route: 042
  209. ACTEMRA [Suspect]
     Active Substance: TOCILIZUMAB
     Route: 048
     Dates: start: 201511
  210. ACTEMRA [Suspect]
     Active Substance: TOCILIZUMAB
     Route: 048
  211. ACTEMRA [Suspect]
     Active Substance: TOCILIZUMAB
     Route: 058
  212. ACTEMRA [Suspect]
     Active Substance: TOCILIZUMAB
     Route: 042
  213. ACTEMRA [Suspect]
     Active Substance: TOCILIZUMAB
     Route: 058
  214. ACTEMRA [Suspect]
     Active Substance: TOCILIZUMAB
     Route: 042
  215. ACTEMRA [Suspect]
     Active Substance: TOCILIZUMAB
     Route: 016
  216. ACTEMRA [Suspect]
     Active Substance: TOCILIZUMAB
     Route: 061
  217. ACTEMRA [Suspect]
     Active Substance: TOCILIZUMAB
     Route: 016
  218. ACTEMRA [Suspect]
     Active Substance: TOCILIZUMAB
  219. ACTEMRA [Suspect]
     Active Substance: TOCILIZUMAB
     Route: 065
  220. ACTEMRA [Suspect]
     Active Substance: TOCILIZUMAB
     Route: 065
  221. ACTEMRA [Suspect]
     Active Substance: TOCILIZUMAB
     Route: 042
  222. ACTEMRA [Suspect]
     Active Substance: TOCILIZUMAB
     Route: 065
  223. ACTEMRA [Suspect]
     Active Substance: TOCILIZUMAB
     Route: 048
  224. ACTEMRA [Suspect]
     Active Substance: TOCILIZUMAB
     Route: 058
  225. ACTEMRA [Suspect]
     Active Substance: TOCILIZUMAB
     Route: 065
  226. ACTEMRA [Suspect]
     Active Substance: TOCILIZUMAB
     Route: 042
  227. ACTEMRA [Suspect]
     Active Substance: TOCILIZUMAB
     Route: 042
  228. ACTEMRA [Suspect]
     Active Substance: TOCILIZUMAB
     Route: 042
  229. ACTEMRA [Suspect]
     Active Substance: TOCILIZUMAB
  230. ACTEMRA [Suspect]
     Active Substance: TOCILIZUMAB
     Route: 042
  231. ACTEMRA [Suspect]
     Active Substance: TOCILIZUMAB
     Route: 065
  232. ACTEMRA [Suspect]
     Active Substance: TOCILIZUMAB
     Route: 065
  233. ACTEMRA [Suspect]
     Active Substance: TOCILIZUMAB
     Route: 065
  234. ACTEMRA [Suspect]
     Active Substance: TOCILIZUMAB
     Dates: end: 201511
  235. ACTEMRA [Suspect]
     Active Substance: TOCILIZUMAB
  236. ACTEMRA [Suspect]
     Active Substance: TOCILIZUMAB
  237. ACTEMRA [Suspect]
     Active Substance: TOCILIZUMAB
  238. ACTEMRA [Suspect]
     Active Substance: TOCILIZUMAB
  239. ACTEMRA [Suspect]
     Active Substance: TOCILIZUMAB
  240. ACTEMRA [Suspect]
     Active Substance: TOCILIZUMAB
  241. ACTEMRA [Suspect]
     Active Substance: TOCILIZUMAB
  242. ACTEMRA [Suspect]
     Active Substance: TOCILIZUMAB
  243. ACTEMRA [Suspect]
     Active Substance: TOCILIZUMAB
  244. ACTEMRA [Suspect]
     Active Substance: TOCILIZUMAB
  245. ACETAMINOPHEN [Suspect]
     Active Substance: ACETAMINOPHEN
  246. ACETAMINOPHEN [Suspect]
     Active Substance: ACETAMINOPHEN
     Route: 065
  247. ACETAMINOPHEN [Suspect]
     Active Substance: ACETAMINOPHEN
     Route: 065
  248. ACETAMINOPHEN [Suspect]
     Active Substance: ACETAMINOPHEN
  249. ACETAMINOPHEN [Suspect]
     Active Substance: ACETAMINOPHEN
     Route: 065
  250. ACETAMINOPHEN [Suspect]
     Active Substance: ACETAMINOPHEN
  251. ACETAMINOPHEN [Suspect]
     Active Substance: ACETAMINOPHEN
  252. ACETAMINOPHEN [Suspect]
     Active Substance: ACETAMINOPHEN
  253. ACETAMINOPHEN [Suspect]
     Active Substance: ACETAMINOPHEN
  254. ACETAMINOPHEN\OXYCODONE HYDROCHLORIDE [Suspect]
     Active Substance: ACETAMINOPHEN\OXYCODONE HYDROCHLORIDE
     Route: 065
  255. ACETAMINOPHEN\OXYCODONE HYDROCHLORIDE [Suspect]
     Active Substance: ACETAMINOPHEN\OXYCODONE HYDROCHLORIDE
     Route: 065
  256. ACETAMINOPHEN\OXYCODONE HYDROCHLORIDE [Suspect]
     Active Substance: ACETAMINOPHEN\OXYCODONE HYDROCHLORIDE
     Route: 065
  257. ACETAMINOPHEN\OXYCODONE HYDROCHLORIDE [Suspect]
     Active Substance: ACETAMINOPHEN\OXYCODONE HYDROCHLORIDE
  258. ACETAMINOPHEN AND CODEINE [Suspect]
     Active Substance: ACETAMINOPHEN\CODEINE PHOSPHATE
  259. ACETAMINOPHEN AND CODEINE [Suspect]
     Active Substance: ACETAMINOPHEN\CODEINE PHOSPHATE
  260. AIMOVIG [Suspect]
     Active Substance: ERENUMAB-AOOE
     Indication: Rheumatoid arthritis
     Route: 065
  261. AIMOVIG [Suspect]
     Active Substance: ERENUMAB-AOOE
     Indication: Migraine
     Route: 065
  262. AIMOVIG [Suspect]
     Active Substance: ERENUMAB-AOOE
  263. AIMOVIG [Suspect]
     Active Substance: ERENUMAB-AOOE
  264. ALENDRONATE SODIUM\CHOLECALCIFEROL [Suspect]
     Active Substance: ALENDRONATE SODIUM\CHOLECALCIFEROL
     Indication: Rheumatoid arthritis
  265. ALENDRONATE SODIUM\CHOLECALCIFEROL [Suspect]
     Active Substance: ALENDRONATE SODIUM\CHOLECALCIFEROL
  266. ALENDRONATE SODIUM\CHOLECALCIFEROL [Suspect]
     Active Substance: ALENDRONATE SODIUM\CHOLECALCIFEROL
  267. ALENDRONATE SODIUM\CHOLECALCIFEROL [Suspect]
     Active Substance: ALENDRONATE SODIUM\CHOLECALCIFEROL
  268. ALENDRONATE CALCIUM [Suspect]
     Active Substance: ALENDRONATE CALCIUM
     Route: 065
  269. ALENDRONATE CALCIUM [Suspect]
     Active Substance: ALENDRONATE CALCIUM
  270. ACETAMINOPHEN [Suspect]
     Active Substance: ACETAMINOPHEN
  271. DICLOFENAC SODIUM [Suspect]
     Active Substance: DICLOFENAC SODIUM
  272. DICLOFENAC SODIUM [Suspect]
     Active Substance: DICLOFENAC SODIUM
     Route: 058
  273. HYDROXYCHLOROQUINE SULFATE [Suspect]
     Active Substance: HYDROXYCHLOROQUINE SULFATE
     Indication: Rheumatoid arthritis
  274. LEFLUNOMIDE [Suspect]
     Active Substance: LEFLUNOMIDE
     Indication: Rheumatoid arthritis
     Route: 048
  275. LEFLUNOMIDE [Suspect]
     Active Substance: LEFLUNOMIDE
  276. APREMILAST [Suspect]
     Active Substance: APREMILAST
  277. APREMILAST [Suspect]
     Active Substance: APREMILAST
  278. PREDNISONE [Suspect]
     Active Substance: PREDNISONE
     Indication: Condition aggravated
  279. PREDNISONE [Suspect]
     Active Substance: PREDNISONE
     Indication: Synovitis
  280. PREDNISONE [Suspect]
     Active Substance: PREDNISONE
     Indication: Pemphigus
  281. PREDNISONE [Suspect]
     Active Substance: PREDNISONE
     Indication: Psoriatic arthropathy
  282. PREDNISONE [Suspect]
     Active Substance: PREDNISONE
     Indication: Rheumatoid arthritis
     Route: 048
  283. PREDNISONE [Suspect]
     Active Substance: PREDNISONE
  284. PREDNISONE [Suspect]
     Active Substance: PREDNISONE
     Route: 042
  285. PREDNISONE [Suspect]
     Active Substance: PREDNISONE
  286. PREDNISONE [Suspect]
     Active Substance: PREDNISONE
     Route: 016
  287. PREDNISONE [Suspect]
     Active Substance: PREDNISONE
  288. PREDNISONE [Suspect]
     Active Substance: PREDNISONE
     Route: 048
  289. PREDNISONE [Suspect]
     Active Substance: PREDNISONE
     Route: 042
  290. PREDNISONE [Suspect]
     Active Substance: PREDNISONE
     Route: 048
  291. PREDNISONE [Suspect]
     Active Substance: PREDNISONE
     Route: 048
  292. PREDNISONE [Suspect]
     Active Substance: PREDNISONE
  293. PREDNISONE [Suspect]
     Active Substance: PREDNISONE
     Route: 048
  294. PREDNISONE [Suspect]
     Active Substance: PREDNISONE
  295. PREDNISONE [Suspect]
     Active Substance: PREDNISONE
     Route: 048
  296. PREDNISONE [Suspect]
     Active Substance: PREDNISONE
  297. PREDNISONE [Suspect]
     Active Substance: PREDNISONE
     Route: 048
  298. PREDNISONE [Suspect]
     Active Substance: PREDNISONE
  299. PREDNISONE [Suspect]
     Active Substance: PREDNISONE
  300. PREDNISONE [Suspect]
     Active Substance: PREDNISONE
     Route: 065
  301. PREDNISONE [Suspect]
     Active Substance: PREDNISONE
  302. PREDNISONE [Suspect]
     Active Substance: PREDNISONE
  303. PREDNISONE [Suspect]
     Active Substance: PREDNISONE
  304. PREDNISONE [Suspect]
     Active Substance: PREDNISONE
  305. PREDNISONE [Suspect]
     Active Substance: PREDNISONE
  306. PREDNISONE [Suspect]
     Active Substance: PREDNISONE
  307. PREDNISONE [Suspect]
     Active Substance: PREDNISONE
  308. PREDNISONE [Suspect]
     Active Substance: PREDNISONE
  309. ASACOL [Suspect]
     Active Substance: MESALAMINE
     Route: 065
  310. ASACOL [Suspect]
     Active Substance: MESALAMINE
  311. ARAVA [Suspect]
     Active Substance: LEFLUNOMIDE
     Indication: Rheumatoid arthritis
     Route: 048
  312. ARAVA [Suspect]
     Active Substance: LEFLUNOMIDE
  313. ARAVA [Suspect]
     Active Substance: LEFLUNOMIDE
     Route: 048
  314. ARAVA [Suspect]
     Active Substance: LEFLUNOMIDE
     Route: 048
  315. ARAVA [Suspect]
     Active Substance: LEFLUNOMIDE
     Route: 048
  316. ARAVA [Suspect]
     Active Substance: LEFLUNOMIDE
     Route: 005
  317. ARAVA [Suspect]
     Active Substance: LEFLUNOMIDE
     Route: 048
  318. ARAVA [Suspect]
     Active Substance: LEFLUNOMIDE
     Route: 065
  319. ARAVA [Suspect]
     Active Substance: LEFLUNOMIDE
  320. ARAVA [Suspect]
     Active Substance: LEFLUNOMIDE
  321. ARAVA [Suspect]
     Active Substance: LEFLUNOMIDE
  322. ARAVA [Suspect]
     Active Substance: LEFLUNOMIDE
  323. ATOMOXETINE HYDROCHLORIDE [Suspect]
     Active Substance: ATOMOXETINE HYDROCHLORIDE
     Indication: Migraine
  324. ATOMOXETINE HYDROCHLORIDE [Suspect]
     Active Substance: ATOMOXETINE HYDROCHLORIDE
     Route: 065
  325. ATOMOXETINE HYDROCHLORIDE [Suspect]
     Active Substance: ATOMOXETINE HYDROCHLORIDE
     Route: 065
  326. ATOMOXETINE HYDROCHLORIDE [Suspect]
     Active Substance: ATOMOXETINE HYDROCHLORIDE
     Route: 065
  327. AZULFIDINE [Suspect]
     Active Substance: SULFASALAZINE
  328. AZULFIDINE [Suspect]
     Active Substance: SULFASALAZINE
  329. BENZOCAINE (BENZOCAINE) [Suspect]
     Active Substance: BENZOCAINE
  330. BENZOCAINE (BENZOCAINE) [Suspect]
     Active Substance: BENZOCAINE
  331. BERINERT [Suspect]
     Active Substance: HUMAN C1-ESTERASE INHIBITOR
     Route: 065
  332. BERINERT [Suspect]
     Active Substance: HUMAN C1-ESTERASE INHIBITOR
  333. BUTAMBEN [Suspect]
     Active Substance: BUTAMBEN
  334. BUTAMBEN [Suspect]
     Active Substance: BUTAMBEN
  335. BUPRENORPHINE [Suspect]
     Active Substance: BUPRENORPHINE
     Route: 065
  336. BUPRENORPHINE [Suspect]
     Active Substance: BUPRENORPHINE
  337. BOTULINUM TOXIN TYPE A [Suspect]
     Active Substance: BOTULINUM TOXIN TYPE A
     Route: 065
  338. BOTULINUM TOXIN TYPE A [Suspect]
     Active Substance: BOTULINUM TOXIN TYPE A
  339. BUTRANS [Suspect]
     Active Substance: BUPRENORPHINE
     Route: 065
  340. BUTRANS [Suspect]
     Active Substance: BUPRENORPHINE
  341. MINERALS\VITAMINS [Suspect]
     Active Substance: MINERALS\VITAMINS
     Route: 016
  342. MINERALS\VITAMINS [Suspect]
     Active Substance: MINERALS\VITAMINS
  343. MINERALS\VITAMINS [Suspect]
     Active Substance: MINERALS\VITAMINS
  344. CANDESARTAN [Suspect]
     Active Substance: CANDESARTAN
     Indication: Migraine
     Route: 048
  345. CANDESARTAN [Suspect]
     Active Substance: CANDESARTAN
     Indication: Rheumatoid arthritis
  346. CALCIUM CARBONATE [Suspect]
     Active Substance: CALCIUM CARBONATE
     Route: 065
  347. CALCIUM CARBONATE [Suspect]
     Active Substance: CALCIUM CARBONATE
  348. CALCIUM CARBONATE\CHOLECALCIFEROL [Suspect]
     Active Substance: CALCIUM CARBONATE\CHOLECALCIFEROL
     Route: 065
  349. CALCIUM CARBONATE\CHOLECALCIFEROL [Suspect]
     Active Substance: CALCIUM CARBONATE\CHOLECALCIFEROL
  350. CALCIUM CHLORIDE [Suspect]
     Active Substance: CALCIUM CHLORIDE
  351. CALCIUM CHLORIDE [Suspect]
     Active Substance: CALCIUM CHLORIDE
  352. CERTOLIZUMAB PEGOL [Suspect]
     Active Substance: CERTOLIZUMAB PEGOL
     Indication: Rheumatoid arthritis
     Route: 058
  353. CERTOLIZUMAB PEGOL [Suspect]
     Active Substance: CERTOLIZUMAB PEGOL
     Indication: Psoriasis
     Route: 058
  354. CERTOLIZUMAB PEGOL [Suspect]
     Active Substance: CERTOLIZUMAB PEGOL
     Route: 058
  355. CERTOLIZUMAB PEGOL [Suspect]
     Active Substance: CERTOLIZUMAB PEGOL
     Route: 058
  356. CERTOLIZUMAB PEGOL [Suspect]
     Active Substance: CERTOLIZUMAB PEGOL
     Dosage: 400 MG, MONTHLY
     Route: 058
  357. CERTOLIZUMAB PEGOL [Suspect]
     Active Substance: CERTOLIZUMAB PEGOL
     Route: 058
  358. CERTOLIZUMAB PEGOL [Suspect]
     Active Substance: CERTOLIZUMAB PEGOL
     Route: 058
  359. CERTOLIZUMAB PEGOL [Suspect]
     Active Substance: CERTOLIZUMAB PEGOL
     Route: 058
  360. CERTOLIZUMAB PEGOL [Suspect]
     Active Substance: CERTOLIZUMAB PEGOL
     Route: 058
  361. CERTOLIZUMAB PEGOL [Suspect]
     Active Substance: CERTOLIZUMAB PEGOL
     Route: 065
  362. CERTOLIZUMAB PEGOL [Suspect]
     Active Substance: CERTOLIZUMAB PEGOL
     Route: 065
  363. CERTOLIZUMAB PEGOL [Suspect]
     Active Substance: CERTOLIZUMAB PEGOL
  364. CERTOLIZUMAB PEGOL [Suspect]
     Active Substance: CERTOLIZUMAB PEGOL
  365. CERTOLIZUMAB PEGOL [Suspect]
     Active Substance: CERTOLIZUMAB PEGOL
  366. CERTOLIZUMAB PEGOL [Suspect]
     Active Substance: CERTOLIZUMAB PEGOL
  367. CETIRIZINE HYDROCHLORIDE [Suspect]
     Active Substance: CETIRIZINE HYDROCHLORIDE
     Indication: Rheumatoid arthritis
  368. CETIRIZINE HYDROCHLORIDE [Suspect]
     Active Substance: CETIRIZINE HYDROCHLORIDE
     Route: 065
  369. CETRIMIDE\CHLORHEXIDINE [Suspect]
     Active Substance: CETRIMIDE\CHLORHEXIDINE
  370. CETRIMIDE\CHLORHEXIDINE [Suspect]
     Active Substance: CETRIMIDE\CHLORHEXIDINE
  371. CETRIMONIUM BROMIDE [Suspect]
     Active Substance: CETRIMONIUM BROMIDE
  372. CETRIMONIUM BROMIDE [Suspect]
     Active Substance: CETRIMONIUM BROMIDE
  373. CHLORAPREP [Suspect]
     Active Substance: CHLORHEXIDINE GLUCONATE\ISOPROPYL ALCOHOL
  374. CHLORAPREP [Suspect]
     Active Substance: CHLORHEXIDINE GLUCONATE\ISOPROPYL ALCOHOL
     Route: 061
  375. CHLORAPREP [Suspect]
     Active Substance: CHLORHEXIDINE GLUCONATE\ISOPROPYL ALCOHOL
     Route: 048
  376. CHLORAPREP [Suspect]
     Active Substance: CHLORHEXIDINE GLUCONATE\ISOPROPYL ALCOHOL
  377. CHLORAPREP [Suspect]
     Active Substance: CHLORHEXIDINE GLUCONATE\ISOPROPYL ALCOHOL
  378. CHLORAPREP [Suspect]
     Active Substance: CHLORHEXIDINE GLUCONATE\ISOPROPYL ALCOHOL
  379. CHLORHEXIDINE ACETATE [Suspect]
     Active Substance: CHLORHEXIDINE ACETATE
  380. CHLORHEXIDINE ACETATE [Suspect]
     Active Substance: CHLORHEXIDINE ACETATE
  381. CHLORHEXIDINE GLUCONATE\ISOPROPYL ALCOHOL [Suspect]
     Active Substance: CHLORHEXIDINE GLUCONATE\ISOPROPYL ALCOHOL
  382. CHLORHEXIDINE GLUCONATE\ISOPROPYL ALCOHOL [Suspect]
     Active Substance: CHLORHEXIDINE GLUCONATE\ISOPROPYL ALCOHOL
  383. CHLORHEXIDINE GLUCONATE\ISOPROPYL ALCOHOL [Suspect]
     Active Substance: CHLORHEXIDINE GLUCONATE\ISOPROPYL ALCOHOL
     Route: 048
  384. CHLORHEXIDINE GLUCONATE\ISOPROPYL ALCOHOL [Suspect]
     Active Substance: CHLORHEXIDINE GLUCONATE\ISOPROPYL ALCOHOL
     Route: 002
  385. CHLORHEXIDINE GLUCONATE\ISOPROPYL ALCOHOL [Suspect]
     Active Substance: CHLORHEXIDINE GLUCONATE\ISOPROPYL ALCOHOL
  386. CHLORHEXIDINE GLUCONATE\ISOPROPYL ALCOHOL [Suspect]
     Active Substance: CHLORHEXIDINE GLUCONATE\ISOPROPYL ALCOHOL
  387. CHLORHEXIDINE GLUCONATE\ISOPROPYL ALCOHOL [Suspect]
     Active Substance: CHLORHEXIDINE GLUCONATE\ISOPROPYL ALCOHOL
  388. CHLORHEXIDINE GLUCONATE\CLOTRIMAZOLE\ISOPROPYL ALCOHOL [Suspect]
     Active Substance: CHLORHEXIDINE GLUCONATE\CLOTRIMAZOLE\ISOPROPYL ALCOHOL
  389. CHLORHEXIDINE GLUCONATE\CLOTRIMAZOLE\ISOPROPYL ALCOHOL [Suspect]
     Active Substance: CHLORHEXIDINE GLUCONATE\CLOTRIMAZOLE\ISOPROPYL ALCOHOL
  390. CHLORHEXIDINE GLUCONATE [Suspect]
     Active Substance: CHLORHEXIDINE GLUCONATE
     Route: 065
  391. CHLORHEXIDINE GLUCONATE [Suspect]
     Active Substance: CHLORHEXIDINE GLUCONATE
  392. CIMZIA [Suspect]
     Active Substance: CERTOLIZUMAB PEGOL
     Indication: Psoriasis
     Route: 058
  393. CIMZIA [Suspect]
     Active Substance: CERTOLIZUMAB PEGOL
     Indication: Rheumatoid arthritis
     Route: 058
  394. CIMZIA [Suspect]
     Active Substance: CERTOLIZUMAB PEGOL
  395. CIMZIA [Suspect]
     Active Substance: CERTOLIZUMAB PEGOL
     Route: 058
  396. CIMZIA [Suspect]
     Active Substance: CERTOLIZUMAB PEGOL
  397. CIMZIA [Suspect]
     Active Substance: CERTOLIZUMAB PEGOL
     Route: 058
  398. CIMZIA [Suspect]
     Active Substance: CERTOLIZUMAB PEGOL
     Route: 065
  399. CIMZIA [Suspect]
     Active Substance: CERTOLIZUMAB PEGOL
     Route: 016
  400. CIMZIA [Suspect]
     Active Substance: CERTOLIZUMAB PEGOL
     Route: 065
  401. CIMZIA [Suspect]
     Active Substance: CERTOLIZUMAB PEGOL
  402. CIMZIA [Suspect]
     Active Substance: CERTOLIZUMAB PEGOL
  403. CIMZIA [Suspect]
     Active Substance: CERTOLIZUMAB PEGOL
  404. CIMZIA [Suspect]
     Active Substance: CERTOLIZUMAB PEGOL
  405. CINRYZE [Suspect]
     Active Substance: HUMAN C1-ESTERASE INHIBITOR
  406. CINRYZE [Suspect]
     Active Substance: HUMAN C1-ESTERASE INHIBITOR
  407. CLONIDINE [Suspect]
     Active Substance: CLONIDINE
  408. CLONIDINE [Suspect]
     Active Substance: CLONIDINE
  409. CODEINE [Suspect]
     Active Substance: CODEINE
  410. CODEINE [Suspect]
     Active Substance: CODEINE
  411. CORTISONE ACETATE [Suspect]
     Active Substance: CORTISONE ACETATE
     Indication: Rheumatoid arthritis
  412. CORTISONE ACETATE [Suspect]
     Active Substance: CORTISONE ACETATE
  413. CORTISONE ACETATE [Suspect]
     Active Substance: CORTISONE ACETATE
  414. CORTISONE ACETATE [Suspect]
     Active Substance: CORTISONE ACETATE
  415. CORTISONE ACETATE [Suspect]
     Active Substance: CORTISONE ACETATE
     Route: 061
  416. CORTISONE ACETATE [Suspect]
     Active Substance: CORTISONE ACETATE
     Route: 048
  417. CORTISONE ACETATE [Suspect]
     Active Substance: CORTISONE ACETATE
  418. CORTISONE ACETATE [Suspect]
     Active Substance: CORTISONE ACETATE
     Route: 048
  419. CORTISONE ACETATE [Suspect]
     Active Substance: CORTISONE ACETATE
     Route: 061
  420. CORTISONE ACETATE [Suspect]
     Active Substance: CORTISONE ACETATE
  421. CORTISONE ACETATE [Suspect]
     Active Substance: CORTISONE ACETATE
     Route: 061
  422. CORTISONE ACETATE [Suspect]
     Active Substance: CORTISONE ACETATE
  423. CORTISONE ACETATE [Suspect]
     Active Substance: CORTISONE ACETATE
     Route: 048
  424. CORTISONE ACETATE [Suspect]
     Active Substance: CORTISONE ACETATE
     Route: 058
  425. CORTISONE ACETATE [Suspect]
     Active Substance: CORTISONE ACETATE
  426. CORTISONE ACETATE [Suspect]
     Active Substance: CORTISONE ACETATE
  427. CORTISONE ACETATE [Suspect]
     Active Substance: CORTISONE ACETATE
  428. CORTISONE ACETATE [Suspect]
     Active Substance: CORTISONE ACETATE
  429. CORTISONE ACETATE [Suspect]
     Active Substance: CORTISONE ACETATE
  430. CORTISONE ACETATE [Suspect]
     Active Substance: CORTISONE ACETATE
  431. CORTISONE ACETATE [Suspect]
     Active Substance: CORTISONE ACETATE
  432. COSENTYX [Suspect]
     Active Substance: SECUKINUMAB
     Indication: Rheumatoid arthritis
     Route: 067
  433. COSENTYX [Suspect]
     Active Substance: SECUKINUMAB
     Indication: Psoriatic arthropathy
     Route: 065
  434. COSENTYX [Suspect]
     Active Substance: SECUKINUMAB
     Route: 040
  435. COSENTYX [Suspect]
     Active Substance: SECUKINUMAB
     Route: 065
  436. COSENTYX [Suspect]
     Active Substance: SECUKINUMAB
  437. COSENTYX [Suspect]
     Active Substance: SECUKINUMAB
  438. COSENTYX [Suspect]
     Active Substance: SECUKINUMAB
  439. COSENTYX [Suspect]
     Active Substance: SECUKINUMAB
  440. ACETAMINOPHEN\CODEINE PHOSPHATE [Suspect]
     Active Substance: ACETAMINOPHEN\CODEINE PHOSPHATE
     Indication: Rheumatoid arthritis
     Route: 065
  441. ACETAMINOPHEN\CODEINE PHOSPHATE [Suspect]
     Active Substance: ACETAMINOPHEN\CODEINE PHOSPHATE
  442. DESOXIMETASONE [Suspect]
     Active Substance: DESOXIMETASONE
     Indication: Rheumatoid arthritis
     Dosage: 25 MILLIGRAM, WEEKLY
  443. DESOXIMETASONE [Suspect]
     Active Substance: DESOXIMETASONE
     Route: 065
  444. DESOXIMETASONE [Suspect]
     Active Substance: DESOXIMETASONE
     Route: 061
  445. DESOXIMETASONE [Suspect]
     Active Substance: DESOXIMETASONE
     Route: 048
  446. DESOXIMETASONE [Suspect]
     Active Substance: DESOXIMETASONE
     Route: 058
  447. DESOXIMETASONE [Suspect]
     Active Substance: DESOXIMETASONE
     Route: 048
  448. DESOXIMETASONE [Suspect]
     Active Substance: DESOXIMETASONE
     Route: 016
  449. DESOXIMETASONE [Suspect]
     Active Substance: DESOXIMETASONE
     Route: 058
  450. DESOXIMETASONE [Suspect]
     Active Substance: DESOXIMETASONE
     Route: 065
  451. DESOXIMETASONE [Suspect]
     Active Substance: DESOXIMETASONE
     Route: 048
  452. DESOXIMETASONE [Suspect]
     Active Substance: DESOXIMETASONE
     Route: 003
  453. DESOXIMETASONE [Suspect]
     Active Substance: DESOXIMETASONE
  454. DESOXIMETASONE [Suspect]
     Active Substance: DESOXIMETASONE
  455. DESOXIMETASONE [Suspect]
     Active Substance: DESOXIMETASONE
  456. DESOXIMETASONE [Suspect]
     Active Substance: DESOXIMETASONE
  457. DESOXIMETASONE [Suspect]
     Active Substance: DESOXIMETASONE
  458. DESOXIMETASONE [Suspect]
     Active Substance: DESOXIMETASONE
  459. DEXPANTHENOL [Suspect]
     Active Substance: DEXPANTHENOL
  460. DEXPANTHENOL [Suspect]
     Active Substance: DEXPANTHENOL
  461. DIPHENHYDRAMINE HYDROCHLORIDE [Suspect]
     Active Substance: DIPHENHYDRAMINE HYDROCHLORIDE
  462. DIPHENHYDRAMINE HYDROCHLORIDE [Suspect]
     Active Substance: DIPHENHYDRAMINE HYDROCHLORIDE
  463. DICLOFENAC [Suspect]
     Active Substance: DICLOFENAC
  464. DICLOFENAC [Suspect]
     Active Substance: DICLOFENAC
  465. DICLOFENAC [Suspect]
     Active Substance: DICLOFENAC
  466. DICLOFENAC DIETHYLAMINE [Suspect]
     Active Substance: DICLOFENAC DIETHYLAMINE
     Route: 065
  467. DICLOFENAC DIETHYLAMINE [Suspect]
     Active Substance: DICLOFENAC DIETHYLAMINE
     Route: 065
  468. DICLOFENAC DIETHYLAMINE [Suspect]
     Active Substance: DICLOFENAC DIETHYLAMINE
  469. DICLOFENAC SODIUM [Suspect]
     Active Substance: DICLOFENAC SODIUM
     Route: 065
  470. DICLOFENAC SODIUM [Suspect]
     Active Substance: DICLOFENAC SODIUM
     Route: 065
  471. DICLOFENAC SODIUM [Suspect]
     Active Substance: DICLOFENAC SODIUM
     Route: 065
  472. DICLOFENAC SODIUM [Suspect]
     Active Substance: DICLOFENAC SODIUM
  473. DICLOFENAC SODIUM [Suspect]
     Active Substance: DICLOFENAC SODIUM
  474. DOMPERIDONE MALEATE [Suspect]
     Active Substance: DOMPERIDONE MALEATE
     Route: 065
  475. DOMPERIDONE MALEATE [Suspect]
     Active Substance: DOMPERIDONE MALEATE
  476. SULFISOMIDINE [Suspect]
     Active Substance: SULFISOMIDINE
  477. SULFISOMIDINE [Suspect]
     Active Substance: SULFISOMIDINE
  478. SULFISOMIDINE SODIUM [Suspect]
     Active Substance: SULFISOMIDINE SODIUM
  479. SULFISOMIDINE SODIUM [Suspect]
     Active Substance: SULFISOMIDINE SODIUM
  480. EMEND [Suspect]
     Active Substance: APREPITANT
     Indication: Rheumatoid arthritis
     Route: 048
  481. EMEND [Suspect]
     Active Substance: APREPITANT
     Route: 065
  482. ENTYVIO [Suspect]
     Active Substance: VEDOLIZUMAB
  483. ENTYVIO [Suspect]
     Active Substance: VEDOLIZUMAB
  484. ERELZI [Suspect]
     Active Substance: ETANERCEPT-SZZS
     Indication: Rheumatoid arthritis
     Dosage: 50 MG, QW
  485. ERELZI [Suspect]
     Active Substance: ETANERCEPT-SZZS
     Route: 058
  486. ERELZI [Suspect]
     Active Substance: ETANERCEPT-SZZS
     Route: 058
  487. ERELZI [Suspect]
     Active Substance: ETANERCEPT-SZZS
  488. ERELZI [Suspect]
     Active Substance: ETANERCEPT-SZZS
     Route: 058
  489. ERELZI [Suspect]
     Active Substance: ETANERCEPT-SZZS
     Dosage: 50 MG, WEEKLY
     Route: 065
  490. ERELZI [Suspect]
     Active Substance: ETANERCEPT-SZZS
     Route: 065
  491. ERELZI [Suspect]
     Active Substance: ETANERCEPT-SZZS
     Route: 058
  492. ERELZI [Suspect]
     Active Substance: ETANERCEPT-SZZS
     Route: 058
  493. ERELZI [Suspect]
     Active Substance: ETANERCEPT-SZZS
  494. ERELZI [Suspect]
     Active Substance: ETANERCEPT-SZZS
     Dosage: 20 MILLIGRAM, QWK
     Route: 058
  495. ERELZI [Suspect]
     Active Substance: ETANERCEPT-SZZS
  496. ERELZI [Suspect]
     Active Substance: ETANERCEPT-SZZS
  497. ERELZI [Suspect]
     Active Substance: ETANERCEPT-SZZS
  498. IRON\VITAMINS [Suspect]
     Active Substance: IRON\VITAMINS
  499. FLUTICASONE PROPIONATE [Suspect]
     Active Substance: FLUTICASONE PROPIONATE
     Route: 065
  500. FLUTICASONE PROPIONATE [Suspect]
     Active Substance: FLUTICASONE PROPIONATE
  501. FLUMETHASONE PIVALATE [Suspect]
     Active Substance: FLUMETHASONE PIVALATE
     Indication: Rheumatoid arthritis
     Route: 058
  502. FLUMETHASONE PIVALATE [Suspect]
     Active Substance: FLUMETHASONE PIVALATE
     Route: 065
  503. FLUMETHASONE PIVALATE [Suspect]
     Active Substance: FLUMETHASONE PIVALATE
     Route: 058
  504. FLUMETHASONE PIVALATE [Suspect]
     Active Substance: FLUMETHASONE PIVALATE
  505. FLUMETHASONE PIVALATE [Suspect]
     Active Substance: FLUMETHASONE PIVALATE
  506. FLUMETHASONE PIVALATE [Suspect]
     Active Substance: FLUMETHASONE PIVALATE
  507. FOLIC ACID [Suspect]
     Active Substance: FOLIC ACID
     Indication: Rheumatoid arthritis
  508. FOLIC ACID [Suspect]
     Active Substance: FOLIC ACID
     Route: 058
  509. FOLIC ACID [Suspect]
     Active Substance: FOLIC ACID
     Route: 048
  510. FOLIC ACID [Suspect]
     Active Substance: FOLIC ACID
  511. FOLIC ACID [Suspect]
     Active Substance: FOLIC ACID
  512. FOLIC ACID [Suspect]
     Active Substance: FOLIC ACID
  513. FOLIC ACID [Suspect]
     Active Substance: FOLIC ACID
  514. FOLIC ACID [Suspect]
     Active Substance: FOLIC ACID
  515. FOLIC ACID [Suspect]
     Active Substance: FOLIC ACID
  516. FOLIC ACID [Suspect]
     Active Substance: FOLIC ACID
  517. FOLIC ACID [Suspect]
     Active Substance: FOLIC ACID
  518. FOLIC ACID [Suspect]
     Active Substance: FOLIC ACID
  519. FOLIC ACID [Suspect]
     Active Substance: FOLIC ACID
  520. FOLIC ACID [Suspect]
     Active Substance: FOLIC ACID
  521. FOLIC ACID [Suspect]
     Active Substance: FOLIC ACID
  522. FOLIC ACID [Suspect]
     Active Substance: FOLIC ACID
     Route: 048
  523. FOLIC ACID [Suspect]
     Active Substance: FOLIC ACID
     Route: 048
  524. FOLIC ACID [Suspect]
     Active Substance: FOLIC ACID
     Route: 016
  525. FOLIC ACID [Suspect]
     Active Substance: FOLIC ACID
     Route: 048
  526. FOLIC ACID [Suspect]
     Active Substance: FOLIC ACID
  527. FOLIC ACID [Suspect]
     Active Substance: FOLIC ACID
  528. FOLIC ACID [Suspect]
     Active Substance: FOLIC ACID
     Route: 058
  529. FOLIC ACID [Suspect]
     Active Substance: FOLIC ACID
     Route: 058
  530. FOLIC ACID [Suspect]
     Active Substance: FOLIC ACID
     Route: 058
  531. FOLIC ACID [Suspect]
     Active Substance: FOLIC ACID
     Route: 065
  532. FOLIC ACID [Suspect]
     Active Substance: FOLIC ACID
     Route: 042
  533. FOLIC ACID [Suspect]
     Active Substance: FOLIC ACID
     Route: 065
  534. FOLIC ACID [Suspect]
     Active Substance: FOLIC ACID
     Route: 065
  535. FOLIC ACID [Suspect]
     Active Substance: FOLIC ACID
     Route: 042
  536. FOLIC ACID [Suspect]
     Active Substance: FOLIC ACID
     Route: 065
  537. FOLIC ACID [Suspect]
     Active Substance: FOLIC ACID
  538. FOLIC ACID [Suspect]
     Active Substance: FOLIC ACID
  539. FOLIC ACID [Suspect]
     Active Substance: FOLIC ACID
  540. FOLIC ACID [Suspect]
     Active Substance: FOLIC ACID
  541. FOLIC ACID [Suspect]
     Active Substance: FOLIC ACID
  542. FOLIC ACID [Suspect]
     Active Substance: FOLIC ACID
  543. FOSAMAX [Suspect]
     Active Substance: ALENDRONATE SODIUM
     Indication: Rheumatoid arthritis
     Route: 048
  544. FOSAMAX [Suspect]
     Active Substance: ALENDRONATE SODIUM
  545. FOSAMAX [Suspect]
     Active Substance: ALENDRONATE SODIUM
     Route: 048
  546. FOSAMAX [Suspect]
     Active Substance: ALENDRONATE SODIUM
     Route: 048
  547. FOSAMAX [Suspect]
     Active Substance: ALENDRONATE SODIUM
     Route: 016
  548. FOSAMAX [Suspect]
     Active Substance: ALENDRONATE SODIUM
     Route: 065
  549. FOSAMAX [Suspect]
     Active Substance: ALENDRONATE SODIUM
     Route: 048
  550. FOSAMAX [Suspect]
     Active Substance: ALENDRONATE SODIUM
     Route: 048
  551. FOSAMAX [Suspect]
     Active Substance: ALENDRONATE SODIUM
  552. FOSAMAX [Suspect]
     Active Substance: ALENDRONATE SODIUM
  553. FOSAMAX [Suspect]
     Active Substance: ALENDRONATE SODIUM
  554. FOSAMAX [Suspect]
     Active Substance: ALENDRONATE SODIUM
  555. FOSAMAX [Suspect]
     Active Substance: ALENDRONATE SODIUM
  556. FOSAMAX [Suspect]
     Active Substance: ALENDRONATE SODIUM
  557. FRAMYCETIN SULFATE\SODIUM PROPIONATE [Suspect]
     Active Substance: FRAMYCETIN SULFATE\SODIUM PROPIONATE
  558. FRAMYCETIN SULFATE\SODIUM PROPIONATE [Suspect]
     Active Substance: FRAMYCETIN SULFATE\SODIUM PROPIONATE
  559. GOLD SODIUM THIOMALATE [Suspect]
     Active Substance: GOLD SODIUM THIOMALATE
  560. GOLD SODIUM THIOMALATE [Suspect]
     Active Substance: GOLD SODIUM THIOMALATE
  561. HAIR KERATIN AMINO ACIDS GOLD COMPLEX [Suspect]
     Active Substance: HAIR KERATIN AMINO ACIDS GOLD COMPLEX
  562. HAIR KERATIN AMINO ACIDS GOLD COMPLEX [Suspect]
     Active Substance: HAIR KERATIN AMINO ACIDS GOLD COMPLEX
  563. GOLD [Suspect]
     Active Substance: GOLD
     Route: 065
  564. GOLD [Suspect]
     Active Substance: GOLD
  565. GOLIMUMAB [Suspect]
     Active Substance: GOLIMUMAB
     Indication: Prostatic specific antigen
  566. GOLIMUMAB [Suspect]
     Active Substance: GOLIMUMAB
     Indication: Rheumatoid arthritis
     Route: 058
  567. GOLIMUMAB [Suspect]
     Active Substance: GOLIMUMAB
     Route: 058
  568. GOLIMUMAB [Suspect]
     Active Substance: GOLIMUMAB
     Route: 058
  569. GOLIMUMAB [Suspect]
     Active Substance: GOLIMUMAB
  570. GOLIMUMAB [Suspect]
     Active Substance: GOLIMUMAB
  571. GOLIMUMAB [Suspect]
     Active Substance: GOLIMUMAB
  572. GOLIMUMAB [Suspect]
     Active Substance: GOLIMUMAB
  573. GRAMICIDIN\NEOMYCIN SULFATE [Suspect]
     Active Substance: GRAMICIDIN\NEOMYCIN SULFATE
  574. GRAMICIDIN\NEOMYCIN SULFATE [Suspect]
     Active Substance: GRAMICIDIN\NEOMYCIN SULFATE
  575. HYALURONIDASE (HUMAN RECOMBINANT) [Suspect]
     Active Substance: HYALURONIDASE (HUMAN RECOMBINANT)
     Indication: Rheumatoid arthritis
     Route: 058
  576. HYALURONIDASE (HUMAN RECOMBINANT) [Suspect]
     Active Substance: HYALURONIDASE (HUMAN RECOMBINANT)
     Route: 042
  577. HYALURONIDASE (HUMAN RECOMBINANT) [Suspect]
     Active Substance: HYALURONIDASE (HUMAN RECOMBINANT)
  578. HYALURONIDASE (HUMAN RECOMBINANT) [Suspect]
     Active Substance: HYALURONIDASE (HUMAN RECOMBINANT)
  579. HYDROCORTISONE PROBUTATE [Suspect]
     Active Substance: HYDROCORTISONE PROBUTATE
  580. HYDROCORTISONE PROBUTATE [Suspect]
     Active Substance: HYDROCORTISONE PROBUTATE
  581. HYDROXYCHLOROQUINE [Suspect]
     Active Substance: HYDROXYCHLOROQUINE
     Indication: Rheumatoid arthritis
  582. HYDROXYCHLOROQUINE [Suspect]
     Active Substance: HYDROXYCHLOROQUINE
  583. HYDROXYCHLOROQUINE [Suspect]
     Active Substance: HYDROXYCHLOROQUINE
     Route: 048
  584. HYDROXYCHLOROQUINE [Suspect]
     Active Substance: HYDROXYCHLOROQUINE
     Route: 048
  585. HYDROXYCHLOROQUINE [Suspect]
     Active Substance: HYDROXYCHLOROQUINE
     Route: 048
  586. HYDROXYCHLOROQUINE [Suspect]
     Active Substance: HYDROXYCHLOROQUINE
     Route: 066
  587. HYDROXYCHLOROQUINE [Suspect]
     Active Substance: HYDROXYCHLOROQUINE
     Route: 066
  588. HYDROXYCHLOROQUINE [Suspect]
     Active Substance: HYDROXYCHLOROQUINE
  589. HYDROXYCHLOROQUINE [Suspect]
     Active Substance: HYDROXYCHLOROQUINE
  590. HYDROXYCHLOROQUINE [Suspect]
     Active Substance: HYDROXYCHLOROQUINE
  591. HYDROXYCHLOROQUINE [Suspect]
     Active Substance: HYDROXYCHLOROQUINE
     Route: 048
  592. HYDROXYCHLOROQUINE [Suspect]
     Active Substance: HYDROXYCHLOROQUINE
     Route: 016
  593. HYDROXYCHLOROQUINE [Suspect]
     Active Substance: HYDROXYCHLOROQUINE
     Route: 058
  594. HYDROXYCHLOROQUINE [Suspect]
     Active Substance: HYDROXYCHLOROQUINE
     Route: 048
  595. HYDROXYCHLOROQUINE [Suspect]
     Active Substance: HYDROXYCHLOROQUINE
  596. HYDROXYCHLOROQUINE [Suspect]
     Active Substance: HYDROXYCHLOROQUINE
     Route: 065
  597. HYDROXYCHLOROQUINE [Suspect]
     Active Substance: HYDROXYCHLOROQUINE
     Route: 048
  598. HYDROXYCHLOROQUINE [Suspect]
     Active Substance: HYDROXYCHLOROQUINE
     Route: 065
  599. HYDROXYCHLOROQUINE [Suspect]
     Active Substance: HYDROXYCHLOROQUINE
     Route: 065
  600. HYDROXYCHLOROQUINE [Suspect]
     Active Substance: HYDROXYCHLOROQUINE
     Route: 065
  601. HYDROXYCHLOROQUINE [Suspect]
     Active Substance: HYDROXYCHLOROQUINE
     Route: 065
  602. HYDROXYCHLOROQUINE [Suspect]
     Active Substance: HYDROXYCHLOROQUINE
  603. HYDROXYCHLOROQUINE [Suspect]
     Active Substance: HYDROXYCHLOROQUINE
  604. HYDROXYCHLOROQUINE [Suspect]
     Active Substance: HYDROXYCHLOROQUINE
  605. HYDROXYCHLOROQUINE [Suspect]
     Active Substance: HYDROXYCHLOROQUINE
  606. HYDROXYCHLOROQUINE [Suspect]
     Active Substance: HYDROXYCHLOROQUINE
  607. HYDROXYCHLOROQUINE [Suspect]
     Active Substance: HYDROXYCHLOROQUINE
  608. HYDROXYCHLOROQUINE [Suspect]
     Active Substance: HYDROXYCHLOROQUINE
  609. HYDROXYCHLOROQUINE [Suspect]
     Active Substance: HYDROXYCHLOROQUINE
  610. HYDROXYCHLOROQUINE [Suspect]
     Active Substance: HYDROXYCHLOROQUINE
  611. HYDROCORTISONE BUTYRATE [Suspect]
     Active Substance: HYDROCORTISONE BUTYRATE
     Indication: Rheumatoid arthritis
     Route: 065
  612. HYDROCORTISONE BUTYRATE [Suspect]
     Active Substance: HYDROCORTISONE BUTYRATE
  613. HUMIRA [Suspect]
     Active Substance: ADALIMUMAB
     Indication: Rheumatoid arthritis
  614. HUMIRA [Suspect]
     Active Substance: ADALIMUMAB
     Indication: Psoriatic arthropathy
  615. HUMIRA [Suspect]
     Active Substance: ADALIMUMAB
     Route: 058
  616. HUMIRA [Suspect]
     Active Substance: ADALIMUMAB
  617. HUMIRA [Suspect]
     Active Substance: ADALIMUMAB
     Route: 058
  618. HUMIRA [Suspect]
     Active Substance: ADALIMUMAB
  619. HUMIRA [Suspect]
     Active Substance: ADALIMUMAB
     Route: 058
  620. HUMIRA [Suspect]
     Active Substance: ADALIMUMAB
     Route: 058
  621. HUMIRA [Suspect]
     Active Substance: ADALIMUMAB
     Route: 058
  622. HUMIRA [Suspect]
     Active Substance: ADALIMUMAB
     Route: 058
  623. HUMIRA [Suspect]
     Active Substance: ADALIMUMAB
     Route: 048
  624. HUMIRA [Suspect]
     Active Substance: ADALIMUMAB
     Route: 058
  625. HUMIRA [Suspect]
     Active Substance: ADALIMUMAB
  626. HUMIRA [Suspect]
     Active Substance: ADALIMUMAB
  627. HUMIRA [Suspect]
     Active Substance: ADALIMUMAB
  628. HUMIRA [Suspect]
     Active Substance: ADALIMUMAB
  629. IODINE [Suspect]
     Active Substance: IODINE
  630. IODINE [Suspect]
     Active Substance: IODINE
  631. ISOPROPYL ALCOHOL [Suspect]
     Active Substance: ISOPROPYL ALCOHOL
     Route: 061
  632. ISOPROPYL ALCOHOL [Suspect]
     Active Substance: ISOPROPYL ALCOHOL
     Route: 048
  633. ISOPROPYL ALCOHOL [Suspect]
     Active Substance: ISOPROPYL ALCOHOL
  634. ISOPROPYL ALCOHOL [Suspect]
     Active Substance: ISOPROPYL ALCOHOL
  635. KEVZARA [Suspect]
     Active Substance: SARILUMAB
     Indication: Rheumatoid arthritis
  636. KEVZARA [Suspect]
     Active Substance: SARILUMAB
  637. LAMICTAL [Suspect]
     Active Substance: LAMOTRIGINE
  638. LAMICTAL [Suspect]
     Active Substance: LAMOTRIGINE
     Route: 048
  639. LAMICTAL [Suspect]
     Active Substance: LAMOTRIGINE
     Route: 048
  640. LEFLUNOMIDE [Suspect]
     Active Substance: LEFLUNOMIDE
     Indication: Rheumatoid arthritis
     Route: 048
  641. LEFLUNOMIDE [Suspect]
     Active Substance: LEFLUNOMIDE
  642. LEFLUNOMIDE [Suspect]
     Active Substance: LEFLUNOMIDE
  643. LEFLUNOMIDE [Suspect]
     Active Substance: LEFLUNOMIDE
     Route: 048
  644. LEFLUNOMIDE [Suspect]
     Active Substance: LEFLUNOMIDE
     Route: 048
  645. LEFLUNOMIDE [Suspect]
     Active Substance: LEFLUNOMIDE
     Route: 048
  646. LEFLUNOMIDE [Suspect]
     Active Substance: LEFLUNOMIDE
     Route: 048
  647. LEFLUNOMIDE [Suspect]
     Active Substance: LEFLUNOMIDE
  648. LEFLUNOMIDE [Suspect]
     Active Substance: LEFLUNOMIDE
     Route: 048
  649. LEFLUNOMIDE [Suspect]
     Active Substance: LEFLUNOMIDE
  650. LEFLUNOMIDE [Suspect]
     Active Substance: LEFLUNOMIDE
  651. LEFLUNOMIDE [Suspect]
     Active Substance: LEFLUNOMIDE
  652. FLUMETHASONE PIVALATE [Suspect]
     Active Substance: FLUMETHASONE PIVALATE
     Indication: Rheumatoid arthritis
     Route: 058
  653. FLUMETHASONE PIVALATE [Suspect]
     Active Substance: FLUMETHASONE PIVALATE
  654. FLUMETHASONE PIVALATE [Suspect]
     Active Substance: FLUMETHASONE PIVALATE
  655. LYSINE HYDROCHLORIDE [Suspect]
     Active Substance: LYSINE HYDROCHLORIDE
  656. LYSINE HYDROCHLORIDE [Suspect]
     Active Substance: LYSINE HYDROCHLORIDE
  657. MAGNESIUM [Suspect]
     Active Substance: MAGNESIUM
     Route: 065
  658. MAGNESIUM [Suspect]
     Active Substance: MAGNESIUM
  659. MARVELON [Suspect]
     Active Substance: DESOGESTREL\ETHINYL ESTRADIOL
     Route: 065
  660. MARVELON [Suspect]
     Active Substance: DESOGESTREL\ETHINYL ESTRADIOL
  661. MEGLUMINE [Suspect]
     Active Substance: MEGLUMINE
     Indication: Migraine
     Route: 065
  662. MEGLUMINE [Suspect]
     Active Substance: MEGLUMINE
  663. MESALAMINE [Suspect]
     Active Substance: MESALAMINE
     Route: 065
  664. MESALAMINE [Suspect]
     Active Substance: MESALAMINE
  665. METFORMIN HYDROCHLORIDE [Suspect]
     Active Substance: METFORMIN HYDROCHLORIDE
     Indication: Migraine
     Route: 065
  666. METFORMIN HYDROCHLORIDE [Suspect]
     Active Substance: METFORMIN HYDROCHLORIDE
  667. METHYLCOBALAMIN [Suspect]
     Active Substance: METHYLCOBALAMIN
  668. METHYLCOBALAMIN [Suspect]
     Active Substance: METHYLCOBALAMIN
  669. MINOCYCLINE [Suspect]
     Active Substance: MINOCYCLINE HYDROCHLORIDE
     Route: 065
  670. MINOCYCLINE [Suspect]
     Active Substance: MINOCYCLINE HYDROCHLORIDE
  671. MYRBETRIQ [Suspect]
     Active Substance: MIRABEGRON
  672. MYCOPHENOLATE MOFETIL [Suspect]
     Active Substance: MYCOPHENOLATE MOFETIL
  673. MYCOPHENOLATE MOFETIL [Suspect]
     Active Substance: MYCOPHENOLATE MOFETIL
  674. MYOCHRYSINE [Suspect]
     Active Substance: GOLD SODIUM THIOMALATE
  675. MYOCHRYSINE [Suspect]
     Active Substance: GOLD SODIUM THIOMALATE
  676. NAPROXEN SODIUM [Suspect]
     Active Substance: NAPROXEN SODIUM
     Indication: Rheumatoid arthritis
  677. NAPROXEN SODIUM [Suspect]
     Active Substance: NAPROXEN SODIUM
  678. NAPROXEN SODIUM [Suspect]
     Active Substance: NAPROXEN SODIUM
     Route: 065
  679. NAPROXEN SODIUM [Suspect]
     Active Substance: NAPROXEN SODIUM
  680. NAPROXEN [Suspect]
     Active Substance: NAPROXEN
  681. NITROFURAZONE [Suspect]
     Active Substance: NITROFURAZONE
  682. NITROFURAZONE [Suspect]
     Active Substance: NITROFURAZONE
  683. NUCALA [Suspect]
     Active Substance: MEPOLIZUMAB
     Route: 065
  684. NUCALA [Suspect]
     Active Substance: MEPOLIZUMAB
  685. ORENCIA [Suspect]
     Active Substance: ABATACEPT
     Indication: Rheumatoid arthritis
  686. ORENCIA [Suspect]
     Active Substance: ABATACEPT
     Route: 058
  687. ORENCIA [Suspect]
     Active Substance: ABATACEPT
     Route: 042
  688. ORENCIA [Suspect]
     Active Substance: ABATACEPT
     Route: 048
  689. ORENCIA [Suspect]
     Active Substance: ABATACEPT
     Route: 058
  690. ORENCIA [Suspect]
     Active Substance: ABATACEPT
     Route: 042
  691. ORENCIA [Suspect]
     Active Substance: ABATACEPT
     Route: 058
  692. ORENCIA [Suspect]
     Active Substance: ABATACEPT
     Dosage: 125 MG, WEEKLY
     Route: 058
  693. ORENCIA [Suspect]
     Active Substance: ABATACEPT
     Route: 058
  694. ORENCIA [Suspect]
     Active Substance: ABATACEPT
     Route: 042
  695. ORENCIA [Suspect]
     Active Substance: ABATACEPT
     Dosage: 125 MG, WEEKLY
     Route: 042
  696. ORENCIA [Suspect]
     Active Substance: ABATACEPT
  697. ORENCIA [Suspect]
     Active Substance: ABATACEPT
     Route: 041
  698. ORENCIA [Suspect]
     Active Substance: ABATACEPT
     Route: 065
  699. ORENCIA [Suspect]
     Active Substance: ABATACEPT
     Route: 065
  700. ORENCIA [Suspect]
     Active Substance: ABATACEPT
     Route: 013
  701. ORENCIA [Suspect]
     Active Substance: ABATACEPT
  702. ORENCIA [Suspect]
     Active Substance: ABATACEPT
     Route: 065
  703. ORENCIA [Suspect]
     Active Substance: ABATACEPT
     Route: 058
  704. ORENCIA [Suspect]
     Active Substance: ABATACEPT
     Route: 065
  705. ORENCIA [Suspect]
     Active Substance: ABATACEPT
     Route: 042
  706. ORENCIA [Suspect]
     Active Substance: ABATACEPT
     Route: 065
  707. ORENCIA [Suspect]
     Active Substance: ABATACEPT
     Route: 065
  708. ORENCIA [Suspect]
     Active Substance: ABATACEPT
     Route: 058
  709. ORENCIA [Suspect]
     Active Substance: ABATACEPT
     Dosage: 125 MILLIGRAM, QWK
     Route: 058
  710. ORENCIA [Suspect]
     Active Substance: ABATACEPT
     Dosage: 125 MILLIGRAM, QWK
     Route: 058
  711. ORENCIA [Suspect]
     Active Substance: ABATACEPT
     Route: 042
  712. ORENCIA [Suspect]
     Active Substance: ABATACEPT
     Route: 058
  713. ORENCIA [Suspect]
     Active Substance: ABATACEPT
     Route: 065
  714. ORENCIA [Suspect]
     Active Substance: ABATACEPT
     Route: 065
  715. ORENCIA [Suspect]
     Active Substance: ABATACEPT
  716. ORENCIA [Suspect]
     Active Substance: ABATACEPT
     Route: 058
  717. ORENCIA [Suspect]
     Active Substance: ABATACEPT
  718. ORENCIA [Suspect]
     Active Substance: ABATACEPT
  719. ORENCIA [Suspect]
     Active Substance: ABATACEPT
  720. ORENCIA [Suspect]
     Active Substance: ABATACEPT
  721. ORENCIA [Suspect]
     Active Substance: ABATACEPT
  722. ORENCIA [Suspect]
     Active Substance: ABATACEPT
  723. ORENCIA [Suspect]
     Active Substance: ABATACEPT
  724. ORENCIA [Suspect]
     Active Substance: ABATACEPT
  725. ORENCIA [Suspect]
     Active Substance: ABATACEPT
  726. ORENCIA [Suspect]
     Active Substance: ABATACEPT
  727. ORENCIA [Suspect]
     Active Substance: ABATACEPT
  728. ORENCIA [Suspect]
     Active Substance: ABATACEPT
  729. ORENCIA [Suspect]
     Active Substance: ABATACEPT
  730. OTEZLA [Suspect]
     Active Substance: APREMILAST
  731. OTEZLA [Suspect]
     Active Substance: APREMILAST
  732. OTEZLA [Suspect]
     Active Substance: APREMILAST
  733. OTEZLA [Suspect]
     Active Substance: APREMILAST
  734. OTEZLA [Suspect]
     Active Substance: APREMILAST
     Route: 048
  735. OTEZLA [Suspect]
     Active Substance: APREMILAST
     Route: 048
  736. OTEZLA [Suspect]
     Active Substance: APREMILAST
  737. OXYCODONE [Suspect]
     Active Substance: OXYCODONE
  738. OXYCODONE [Suspect]
     Active Substance: OXYCODONE
     Route: 065
  739. OXYCODONE [Suspect]
     Active Substance: OXYCODONE
  740. OXYCODONE [Suspect]
     Active Substance: OXYCODONE
  741. OXYCODONE [Suspect]
     Active Substance: OXYCODONE
  742. PANTOPRAZOLE SODIUM ANHYDROUS [Suspect]
     Active Substance: PANTOPRAZOLE SODIUM ANHYDROUS
     Route: 016
  743. PANTOPRAZOLE SODIUM ANHYDROUS [Suspect]
     Active Substance: PANTOPRAZOLE SODIUM ANHYDROUS
  744. PANTOPRAZOLE SODIUM ANHYDROUS [Suspect]
     Active Substance: PANTOPRAZOLE SODIUM ANHYDROUS
     Route: 065
  745. PANTOPRAZOLE SODIUM ANHYDROUS [Suspect]
     Active Substance: PANTOPRAZOLE SODIUM ANHYDROUS
  746. PANTOPRAZOLE SODIUM ANHYDROUS [Suspect]
     Active Substance: PANTOPRAZOLE SODIUM ANHYDROUS
  747. PANTOPRAZOLE SODIUM ANHYDROUS [Suspect]
     Active Substance: PANTOPRAZOLE SODIUM ANHYDROUS
  748. PARA-AMINOSALICYLIC ACID [Suspect]
     Active Substance: AMINOSALICYLIC ACID
  749. PARA-AMINOSALICYLIC ACID [Suspect]
     Active Substance: AMINOSALICYLIC ACID
  750. PERIOGARD [Suspect]
     Active Substance: CHLORHEXIDINE GLUCONATE
  751. PERIOGARD [Suspect]
     Active Substance: CHLORHEXIDINE GLUCONATE
  752. PERIOGARD [Suspect]
     Active Substance: CHLORHEXIDINE GLUCONATE
  753. PERIOGARD [Suspect]
     Active Substance: CHLORHEXIDINE GLUCONATE
  754. PHTHALYLSULFATHIAZOLE [Suspect]
     Active Substance: PHTHALYLSULFATHIAZOLE
     Indication: Rheumatoid arthritis
  755. PHTHALYLSULFATHIAZOLE [Suspect]
     Active Substance: PHTHALYLSULFATHIAZOLE
     Route: 065
  756. PLAQUENIL [Suspect]
     Active Substance: HYDROXYCHLOROQUINE SULFATE
     Indication: Rheumatoid arthritis
     Dates: start: 2012
  757. PLAQUENIL [Suspect]
     Active Substance: HYDROXYCHLOROQUINE SULFATE
     Route: 048
  758. PLAQUENIL [Suspect]
     Active Substance: HYDROXYCHLOROQUINE SULFATE
     Route: 048
  759. PLAQUENIL [Suspect]
     Active Substance: HYDROXYCHLOROQUINE SULFATE
     Route: 048
  760. PLAQUENIL [Suspect]
     Active Substance: HYDROXYCHLOROQUINE SULFATE
  761. PLAQUENIL [Suspect]
     Active Substance: HYDROXYCHLOROQUINE SULFATE
     Route: 048
  762. PLAQUENIL [Suspect]
     Active Substance: HYDROXYCHLOROQUINE SULFATE
     Route: 048
  763. PLAQUENIL [Suspect]
     Active Substance: HYDROXYCHLOROQUINE SULFATE
     Route: 048
  764. PLAQUENIL [Suspect]
     Active Substance: HYDROXYCHLOROQUINE SULFATE
  765. PLAQUENIL [Suspect]
     Active Substance: HYDROXYCHLOROQUINE SULFATE
     Route: 048
  766. POVIDONE-IODINE [Suspect]
     Active Substance: POVIDONE-IODINE
     Route: 065
  767. POVIDONE-IODINE [Suspect]
     Active Substance: POVIDONE-IODINE
  768. PSEUDOEPHEDRINE HYDROCHLORIDE [Suspect]
     Active Substance: PSEUDOEPHEDRINE HYDROCHLORIDE
     Indication: Rheumatoid arthritis
  769. PSEUDOEPHEDRINE HYDROCHLORIDE [Suspect]
     Active Substance: PSEUDOEPHEDRINE HYDROCHLORIDE
     Route: 065
  770. PSEUDOEPHEDRINE HYDROCHLORIDE [Suspect]
     Active Substance: PSEUDOEPHEDRINE HYDROCHLORIDE
     Route: 065
  771. PSEUDOEPHEDRINE HYDROCHLORIDE [Suspect]
     Active Substance: PSEUDOEPHEDRINE HYDROCHLORIDE
  772. PSEUDOEPHEDRINE [Suspect]
     Active Substance: PSEUDOEPHEDRINE
     Indication: Rheumatoid arthritis
  773. PSEUDOEPHEDRINE [Suspect]
     Active Substance: PSEUDOEPHEDRINE
  774. QUETIAPINE FUMARATE [Suspect]
     Active Substance: QUETIAPINE FUMARATE
     Route: 048
  775. QUETIAPINE FUMARATE [Suspect]
     Active Substance: QUETIAPINE FUMARATE
     Route: 065
  776. QUETIAPINE FUMARATE [Suspect]
     Active Substance: QUETIAPINE FUMARATE
     Route: 048
  777. QUETIAPINE FUMARATE [Suspect]
     Active Substance: QUETIAPINE FUMARATE
  778. QUETIAPINE FUMARATE [Suspect]
     Active Substance: QUETIAPINE FUMARATE
  779. QUETIAPINE FUMARATE [Suspect]
     Active Substance: QUETIAPINE FUMARATE
  780. QUETIAPINE FUMARATE [Suspect]
     Active Substance: QUETIAPINE FUMARATE
  781. QUETIAPINE FUMARATE [Suspect]
     Active Substance: QUETIAPINE FUMARATE
  782. RAMIPRIL [Suspect]
     Active Substance: RAMIPRIL
     Indication: Rheumatoid arthritis
     Route: 042
  783. RAMIPRIL [Suspect]
     Active Substance: RAMIPRIL
     Route: 042
  784. RAMIPRIL [Suspect]
     Active Substance: RAMIPRIL
     Route: 065
  785. RAMIPRIL [Suspect]
     Active Substance: RAMIPRIL
     Route: 016
  786. RAMIPRIL [Suspect]
     Active Substance: RAMIPRIL
  787. RAMIPRIL [Suspect]
     Active Substance: RAMIPRIL
  788. RAMIPRIL [Suspect]
     Active Substance: RAMIPRIL
  789. RAMIPRIL [Suspect]
     Active Substance: RAMIPRIL
  790. RANITIDINE [Suspect]
     Active Substance: RANITIDINE
     Indication: Rheumatoid arthritis
     Route: 065
  791. RANITIDINE [Suspect]
     Active Substance: RANITIDINE
  792. CETIRIZINE HYDROCHLORIDE [Suspect]
     Active Substance: CETIRIZINE HYDROCHLORIDE
     Indication: Rheumatoid arthritis
  793. CETIRIZINE HYDROCHLORIDE\PSEUDOEPHEDRINE HYDROCHLORIDE [Suspect]
     Active Substance: CETIRIZINE HYDROCHLORIDE\PSEUDOEPHEDRINE HYDROCHLORIDE
     Indication: Rheumatoid arthritis
  794. CETIRIZINE HYDROCHLORIDE\PSEUDOEPHEDRINE HYDROCHLORIDE [Suspect]
     Active Substance: CETIRIZINE HYDROCHLORIDE\PSEUDOEPHEDRINE HYDROCHLORIDE
  795. CETIRIZINE HYDROCHLORIDE\PSEUDOEPHEDRINE HYDROCHLORIDE [Suspect]
     Active Substance: CETIRIZINE HYDROCHLORIDE\PSEUDOEPHEDRINE HYDROCHLORIDE
  796. CETIRIZINE HYDROCHLORIDE\PSEUDOEPHEDRINE HYDROCHLORIDE [Suspect]
     Active Substance: CETIRIZINE HYDROCHLORIDE\PSEUDOEPHEDRINE HYDROCHLORIDE
  797. CETIRIZINE HYDROCHLORIDE [Suspect]
     Active Substance: CETIRIZINE HYDROCHLORIDE
     Indication: Rheumatoid arthritis
  798. CETIRIZINE HYDROCHLORIDE [Suspect]
     Active Substance: CETIRIZINE HYDROCHLORIDE
  799. CETIRIZINE HYDROCHLORIDE [Suspect]
     Active Substance: CETIRIZINE HYDROCHLORIDE
     Route: 048
  800. CETIRIZINE HYDROCHLORIDE [Suspect]
     Active Substance: CETIRIZINE HYDROCHLORIDE
  801. CETIRIZINE HYDROCHLORIDE [Suspect]
     Active Substance: CETIRIZINE HYDROCHLORIDE
  802. REMICADE [Suspect]
     Active Substance: INFLIXIMAB
     Indication: Colitis ulcerative
  803. REMICADE [Suspect]
     Active Substance: INFLIXIMAB
     Indication: Rheumatoid arthritis
     Route: 058
  804. REMICADE [Suspect]
     Active Substance: INFLIXIMAB
     Route: 042
  805. REMICADE [Suspect]
     Active Substance: INFLIXIMAB
  806. REMICADE [Suspect]
     Active Substance: INFLIXIMAB
     Route: 040
  807. REMICADE [Suspect]
     Active Substance: INFLIXIMAB
  808. REMICADE [Suspect]
     Active Substance: INFLIXIMAB
  809. REMICADE [Suspect]
     Active Substance: INFLIXIMAB
  810. REMICADE [Suspect]
     Active Substance: INFLIXIMAB
  811. RITUXAN [Suspect]
     Active Substance: RITUXIMAB
     Indication: Rheumatoid arthritis
     Route: 042
  812. RITUXAN [Suspect]
     Active Substance: RITUXIMAB
  813. RITUXIMAB [Suspect]
     Active Substance: RITUXIMAB
     Indication: Rheumatoid arthritis
     Route: 042
  814. RITUXIMAB [Suspect]
     Active Substance: RITUXIMAB
     Route: 042
  815. RITUXIMAB [Suspect]
     Active Substance: RITUXIMAB
     Route: 065
  816. RITUXIMAB [Suspect]
     Active Substance: RITUXIMAB
     Route: 042
  817. RITUXIMAB [Suspect]
     Active Substance: RITUXIMAB
     Route: 048
  818. RITUXIMAB [Suspect]
     Active Substance: RITUXIMAB
     Route: 042
  819. RITUXIMAB [Suspect]
     Active Substance: RITUXIMAB
     Route: 058
  820. RITUXIMAB [Suspect]
     Active Substance: RITUXIMAB
     Route: 042
  821. RITUXIMAB [Suspect]
     Active Substance: RITUXIMAB
     Route: 058
  822. RITUXIMAB [Suspect]
     Active Substance: RITUXIMAB
     Route: 042
  823. RITUXIMAB [Suspect]
     Active Substance: RITUXIMAB
     Route: 042
  824. RITUXIMAB [Suspect]
     Active Substance: RITUXIMAB
     Route: 065
  825. RITUXIMAB [Suspect]
     Active Substance: RITUXIMAB
  826. RITUXIMAB [Suspect]
     Active Substance: RITUXIMAB
  827. RITUXIMAB [Suspect]
     Active Substance: RITUXIMAB
  828. RITUXIMAB [Suspect]
     Active Substance: RITUXIMAB
  829. RITUXIMAB [Suspect]
     Active Substance: RITUXIMAB
  830. RITUXIMAB [Suspect]
     Active Substance: RITUXIMAB
  831. RITUXIMAB [Suspect]
     Active Substance: RITUXIMAB
  832. RITUXIMAB [Suspect]
     Active Substance: RITUXIMAB
  833. RITUXIMAB [Suspect]
     Active Substance: RITUXIMAB
  834. HYALURONIDASE (HUMAN RECOMBINANT)\RITUXIMAB [Suspect]
     Active Substance: HYALURONIDASE (HUMAN RECOMBINANT)\RITUXIMAB
     Indication: Rheumatoid arthritis
     Route: 058
  835. HYALURONIDASE (HUMAN RECOMBINANT)\RITUXIMAB [Suspect]
     Active Substance: HYALURONIDASE (HUMAN RECOMBINANT)\RITUXIMAB
     Route: 042
  836. HYALURONIDASE (HUMAN RECOMBINANT)\RITUXIMAB [Suspect]
     Active Substance: HYALURONIDASE (HUMAN RECOMBINANT)\RITUXIMAB
  837. HYALURONIDASE (HUMAN RECOMBINANT)\RITUXIMAB [Suspect]
     Active Substance: HYALURONIDASE (HUMAN RECOMBINANT)\RITUXIMAB
  838. DIETARY SUPPLEMENT\HERBALS [Suspect]
     Active Substance: DIETARY SUPPLEMENT\HERBALS
     Route: 048
  839. DIETARY SUPPLEMENT\HERBALS [Suspect]
     Active Substance: DIETARY SUPPLEMENT\HERBALS
  840. DIETARY SUPPLEMENT [Suspect]
     Active Substance: DIETARY SUPPLEMENT
  841. DIETARY SUPPLEMENT [Suspect]
     Active Substance: DIETARY SUPPLEMENT
  842. SARILUMAB [Suspect]
     Active Substance: SARILUMAB
     Indication: Rheumatoid arthritis
  843. SARILUMAB [Suspect]
     Active Substance: SARILUMAB
  844. SIMPONI [Suspect]
     Active Substance: GOLIMUMAB
     Indication: Rheumatoid arthritis
     Route: 058
  845. SIMPONI [Suspect]
     Active Substance: GOLIMUMAB
     Indication: Prostatic specific antigen
     Dosage: 50 MG, MONTHLY
     Route: 058
  846. SIMPONI [Suspect]
     Active Substance: GOLIMUMAB
     Route: 042
  847. SIMPONI [Suspect]
     Active Substance: GOLIMUMAB
     Route: 065
  848. SIMPONI [Suspect]
     Active Substance: GOLIMUMAB
     Route: 052
  849. SIMPONI [Suspect]
     Active Substance: GOLIMUMAB
     Route: 058
  850. SIMPONI [Suspect]
     Active Substance: GOLIMUMAB
     Dosage: 50 MG, MONTHLY
  851. SIMPONI [Suspect]
     Active Substance: GOLIMUMAB
     Route: 065
  852. SIMPONI [Suspect]
     Active Substance: GOLIMUMAB
  853. SIMPONI [Suspect]
     Active Substance: GOLIMUMAB
  854. SIMPONI [Suspect]
     Active Substance: GOLIMUMAB
  855. SIMPONI [Suspect]
     Active Substance: GOLIMUMAB
  856. GOLD SODIUM THIOMALATE [Suspect]
     Active Substance: GOLD SODIUM THIOMALATE
     Indication: Rheumatoid arthritis
  857. GOLD SODIUM THIOMALATE [Suspect]
     Active Substance: GOLD SODIUM THIOMALATE
  858. GOLD SODIUM THIOMALATE [Suspect]
     Active Substance: GOLD SODIUM THIOMALATE
  859. SODIUM FLUORIDE [Suspect]
     Active Substance: SODIUM FLUORIDE
  860. SODIUM FLUORIDE [Suspect]
     Active Substance: SODIUM FLUORIDE
  861. STELARA [Suspect]
     Active Substance: USTEKINUMAB
     Route: 058
  862. STELARA [Suspect]
     Active Substance: USTEKINUMAB
  863. STELARA [Suspect]
     Active Substance: USTEKINUMAB
     Route: 042
  864. STELARA [Suspect]
     Active Substance: USTEKINUMAB
     Route: 058
  865. STELARA [Suspect]
     Active Substance: USTEKINUMAB
     Route: 065
  866. STELARA [Suspect]
     Active Substance: USTEKINUMAB
     Route: 065
  867. STELARA [Suspect]
     Active Substance: USTEKINUMAB
  868. STELARA [Suspect]
     Active Substance: USTEKINUMAB
  869. STELARA [Suspect]
     Active Substance: USTEKINUMAB
  870. SULFAMETHOXAZOLE AND TRIMETHOPRIM [Suspect]
     Active Substance: SULFAMETHOXAZOLE\TRIMETHOPRIM
  871. SULFAMETHOXAZOLE AND TRIMETHOPRIM [Suspect]
     Active Substance: SULFAMETHOXAZOLE\TRIMETHOPRIM
  872. SULFAMETHOXAZOLE AND TRIMETHOPRIM [Suspect]
     Active Substance: SULFAMETHOXAZOLE\TRIMETHOPRIM
  873. SULFAMETHOXAZOLE AND TRIMETHOPRIM [Suspect]
     Active Substance: SULFAMETHOXAZOLE\TRIMETHOPRIM
  874. SULFATHALIDINE [Suspect]
     Active Substance: PHTHALYLSULFATHIAZOLE
     Indication: Rheumatoid arthritis
  875. SULFATHALIDINE [Suspect]
     Active Substance: PHTHALYLSULFATHIAZOLE
  876. SULFATHALIDINE [Suspect]
     Active Substance: PHTHALYLSULFATHIAZOLE
     Route: 048
  877. SULFATHALIDINE [Suspect]
     Active Substance: PHTHALYLSULFATHIAZOLE
  878. SULFATHALIDINE [Suspect]
     Active Substance: PHTHALYLSULFATHIAZOLE
     Route: 048
  879. SULFATHALIDINE [Suspect]
     Active Substance: PHTHALYLSULFATHIAZOLE
     Route: 016
  880. SULFATHALIDINE [Suspect]
     Active Substance: PHTHALYLSULFATHIAZOLE
     Route: 016
  881. SULFATHALIDINE [Suspect]
     Active Substance: PHTHALYLSULFATHIAZOLE
     Route: 042
  882. SULFATHALIDINE [Suspect]
     Active Substance: PHTHALYLSULFATHIAZOLE
  883. SULFATHALIDINE [Suspect]
     Active Substance: PHTHALYLSULFATHIAZOLE
     Route: 048
  884. SULFATHALIDINE [Suspect]
     Active Substance: PHTHALYLSULFATHIAZOLE
     Route: 048
  885. SULFATHALIDINE [Suspect]
     Active Substance: PHTHALYLSULFATHIAZOLE
     Route: 048
  886. SULFATHALIDINE [Suspect]
     Active Substance: PHTHALYLSULFATHIAZOLE
     Route: 048
  887. SULFATHALIDINE [Suspect]
     Active Substance: PHTHALYLSULFATHIAZOLE
  888. SULFATHALIDINE [Suspect]
     Active Substance: PHTHALYLSULFATHIAZOLE
     Route: 048
  889. SULFATHALIDINE [Suspect]
     Active Substance: PHTHALYLSULFATHIAZOLE
     Route: 065
  890. SULFATHALIDINE [Suspect]
     Active Substance: PHTHALYLSULFATHIAZOLE
  891. SULFATHALIDINE [Suspect]
     Active Substance: PHTHALYLSULFATHIAZOLE
  892. SULFATHALIDINE [Suspect]
     Active Substance: PHTHALYLSULFATHIAZOLE
  893. SULFATHALIDINE [Suspect]
     Active Substance: PHTHALYLSULFATHIAZOLE
  894. SULFATHALIDINE [Suspect]
     Active Substance: PHTHALYLSULFATHIAZOLE
  895. HYDROXYCHLOROQUINE SULFATE [Suspect]
     Active Substance: HYDROXYCHLOROQUINE SULFATE
     Indication: Rheumatoid arthritis
  896. SULFATHIAZOLE [Suspect]
     Active Substance: SULFATHIAZOLE
  897. SULFATHIAZOLE [Suspect]
     Active Substance: SULFATHIAZOLE
  898. THYMOL [Suspect]
     Active Substance: THYMOL
  899. THYMOL [Suspect]
     Active Substance: THYMOL
  900. TOCILIZUMAB [Suspect]
     Active Substance: TOCILIZUMAB
     Indication: Rheumatoid arthritis
     Route: 058
  901. TOCILIZUMAB [Suspect]
     Active Substance: TOCILIZUMAB
     Route: 042
  902. TOCILIZUMAB [Suspect]
     Active Substance: TOCILIZUMAB
     Route: 016
  903. TOCILIZUMAB [Suspect]
     Active Substance: TOCILIZUMAB
     Route: 058
  904. TOCILIZUMAB [Suspect]
     Active Substance: TOCILIZUMAB
  905. TOCILIZUMAB [Suspect]
     Active Substance: TOCILIZUMAB
  906. TOCILIZUMAB [Suspect]
     Active Substance: TOCILIZUMAB
  907. TOCILIZUMAB [Suspect]
     Active Substance: TOCILIZUMAB
  908. TOCILIZUMAB [Suspect]
     Active Substance: TOCILIZUMAB
  909. TOCILIZUMAB [Suspect]
     Active Substance: TOCILIZUMAB
  910. TOPAMAX [Suspect]
     Active Substance: TOPIRAMATE
     Indication: Migraine
  911. TOPAMAX [Suspect]
     Active Substance: TOPIRAMATE
     Route: 048
  912. TOPAMAX [Suspect]
     Active Substance: TOPIRAMATE
     Route: 048
  913. TOPAMAX [Suspect]
     Active Substance: TOPIRAMATE
     Route: 065
  914. TOPAMAX [Suspect]
     Active Substance: TOPIRAMATE
     Route: 048
  915. TOPICORT [Suspect]
     Active Substance: DESOXIMETASONE
     Indication: Rheumatoid arthritis
     Route: 048
  916. TOPICORT [Suspect]
     Active Substance: DESOXIMETASONE
  917. TOPICORT [Suspect]
     Active Substance: DESOXIMETASONE
     Route: 058
  918. TOPICORT [Suspect]
     Active Substance: DESOXIMETASONE
  919. TOPICORT [Suspect]
     Active Substance: DESOXIMETASONE
  920. TOPICORT [Suspect]
     Active Substance: DESOXIMETASONE
  921. HYDROCORTISONE ACETATE [Suspect]
     Active Substance: HYDROCORTISONE ACETATE
     Indication: Rheumatoid arthritis
     Route: 061
  922. HYDROCORTISONE ACETATE [Suspect]
     Active Substance: HYDROCORTISONE ACETATE
     Route: 058
  923. HYDROCORTISONE ACETATE [Suspect]
     Active Substance: HYDROCORTISONE ACETATE
     Route: 048
  924. HYDROCORTISONE ACETATE [Suspect]
     Active Substance: HYDROCORTISONE ACETATE
  925. HYDROCORTISONE ACETATE [Suspect]
     Active Substance: HYDROCORTISONE ACETATE
  926. HYDROCORTISONE ACETATE [Suspect]
     Active Substance: HYDROCORTISONE ACETATE
  927. HYDROCORTISONE ACETATE [Suspect]
     Active Substance: HYDROCORTISONE ACETATE
  928. HYDROCORTISONE ACETATE [Suspect]
     Active Substance: HYDROCORTISONE ACETATE
  929. TOPIRAMATE [Suspect]
     Active Substance: TOPIRAMATE
     Indication: Migraine
  930. TOPIRAMATE [Suspect]
     Active Substance: TOPIRAMATE
     Route: 065
  931. TOPIRAMATE [Suspect]
     Active Substance: TOPIRAMATE
     Route: 065
  932. TOPIRAMATE [Suspect]
     Active Substance: TOPIRAMATE
     Route: 065
  933. TOPIRAMATE [Suspect]
     Active Substance: TOPIRAMATE
     Route: 048
  934. TOPIRAMATE [Suspect]
     Active Substance: TOPIRAMATE
     Route: 048
  935. TOPIRAMATE [Suspect]
     Active Substance: TOPIRAMATE
     Route: 065
  936. TRIAMCINOLONE [Suspect]
     Active Substance: TRIAMCINOLONE
  937. TRIAMCINOLONE [Suspect]
     Active Substance: TRIAMCINOLONE
  938. TYROTHRICIN [Suspect]
     Active Substance: TYROTHRICIN
  939. TYROTHRICIN [Suspect]
     Active Substance: TYROTHRICIN
  940. TRIAMCINOLONE ACETONIDE [Suspect]
     Active Substance: TRIAMCINOLONE ACETONIDE
     Indication: Rheumatoid arthritis
     Route: 014
  941. TRIAMCINOLONE ACETONIDE [Suspect]
     Active Substance: TRIAMCINOLONE ACETONIDE
  942. TRAMADOL [Suspect]
     Active Substance: TRAMADOL
     Route: 065
  943. TRAMADOL [Suspect]
     Active Substance: TRAMADOL
  944. TRICLOSAN [Suspect]
     Active Substance: TRICLOSAN
  945. TRICLOSAN [Suspect]
     Active Substance: TRICLOSAN
  946. USTEKINUMAB [Suspect]
     Active Substance: USTEKINUMAB
  947. USTEKINUMAB [Suspect]
     Active Substance: USTEKINUMAB
     Route: 058
  948. USTEKINUMAB [Suspect]
     Active Substance: USTEKINUMAB
     Route: 058
  949. USTEKINUMAB [Suspect]
     Active Substance: USTEKINUMAB
     Route: 042
  950. USTEKINUMAB [Suspect]
     Active Substance: USTEKINUMAB
     Route: 065
  951. USTEKINUMAB [Suspect]
     Active Substance: USTEKINUMAB
     Route: 042
  952. USTEKINUMAB [Suspect]
     Active Substance: USTEKINUMAB
  953. VITAMIN C [Suspect]
     Active Substance: ASCORBIC ACID
  954. VITAMIN C [Suspect]
     Active Substance: ASCORBIC ACID
  955. VITAMIN C [Suspect]
     Active Substance: ASCORBIC ACID
  956. VITAMIN D3 [Suspect]
     Active Substance: CHOLECALCIFEROL
  957. VITAMIN D3 [Suspect]
     Active Substance: CHOLECALCIFEROL
     Route: 016
  958. VITAMIN D3 [Suspect]
     Active Substance: CHOLECALCIFEROL
  959. DICLOFENAC DIETHYLAMINE [Suspect]
     Active Substance: DICLOFENAC DIETHYLAMINE
  960. DICLOFENAC DIETHYLAMINE [Suspect]
     Active Substance: DICLOFENAC DIETHYLAMINE
  961. DICLOFENAC DIETHYLAMINE [Suspect]
     Active Substance: DICLOFENAC DIETHYLAMINE
     Indication: Rheumatoid arthritis
     Route: 065
  962. DICLOFENAC DIETHYLAMINE [Suspect]
     Active Substance: DICLOFENAC DIETHYLAMINE
     Route: 065
  963. DICLOFENAC DIETHYLAMINE [Suspect]
     Active Substance: DICLOFENAC DIETHYLAMINE
  964. DICLOFENAC DIETHYLAMINE [Suspect]
     Active Substance: DICLOFENAC DIETHYLAMINE
  965. PREDNISONE [Suspect]
     Active Substance: PREDNISONE
     Indication: Rheumatoid arthritis
     Route: 048
  966. PREDNISONE [Suspect]
     Active Substance: PREDNISONE
  967. DICLOFENAC POTASSIUM [Suspect]
     Active Substance: DICLOFENAC POTASSIUM
     Indication: Rheumatoid arthritis
  968. DICLOFENAC POTASSIUM [Suspect]
     Active Substance: DICLOFENAC POTASSIUM
     Route: 065
  969. DICLOFENAC POTASSIUM [Suspect]
     Active Substance: DICLOFENAC POTASSIUM
     Route: 048
  970. DICLOFENAC POTASSIUM [Suspect]
     Active Substance: DICLOFENAC POTASSIUM
  971. DICLOFENAC POTASSIUM [Suspect]
     Active Substance: DICLOFENAC POTASSIUM
  972. ZYRTEC-D [Suspect]
     Active Substance: CETIRIZINE HYDROCHLORIDE\PSEUDOEPHEDRINE HYDROCHLORIDE
  973. ZYRTEC-D [Suspect]
     Active Substance: CETIRIZINE HYDROCHLORIDE\PSEUDOEPHEDRINE HYDROCHLORIDE
  974. LANSOPRAZOLE [Suspect]
     Active Substance: LANSOPRAZOLE
     Route: 065
  975. LANSOPRAZOLE [Suspect]
     Active Substance: LANSOPRAZOLE
  976. LANSOPRAZOLE [Concomitant]
     Active Substance: LANSOPRAZOLE
  977. LANSOPRAZOLE [Concomitant]
     Active Substance: LANSOPRAZOLE
  978. FISH OIL [Concomitant]
     Active Substance: FISH OIL
     Route: 065
  979. ACETAMINOPHEN\CAFFEINE\CODEINE PHOSPHATE [Concomitant]
     Active Substance: ACETAMINOPHEN\CAFFEINE\CODEINE PHOSPHATE
  980. ATIVAN [Concomitant]
     Active Substance: LORAZEPAM
     Indication: Anxiety
  981. ATIVAN [Concomitant]
     Active Substance: LORAZEPAM
     Route: 065
  982. ATIVAN [Concomitant]
     Active Substance: LORAZEPAM
  983. AZATHIOPRINE [Concomitant]
     Active Substance: AZATHIOPRINE
  984. AZATHIOPRINE [Concomitant]
     Active Substance: AZATHIOPRINE
  985. CAFFEINE [Concomitant]
     Active Substance: CAFFEINE
  986. CAFFEINE [Concomitant]
     Active Substance: CAFFEINE
  987. CAFFEINE [Concomitant]
     Active Substance: CAFFEINE
  988. CAFFEINE [Concomitant]
     Active Substance: CAFFEINE
  989. CALCIUM [Concomitant]
     Active Substance: CALCIUM
     Route: 065
  990. CALCIUM [Concomitant]
     Active Substance: CALCIUM
  991. CALCIUM GLUCONATE [Concomitant]
     Active Substance: CALCIUM GLUCONATE
     Route: 065
  992. CALCIUM GLUCONATE [Concomitant]
     Active Substance: CALCIUM GLUCONATE
  993. CYANOCOBALAMIN [Concomitant]
     Active Substance: CYANOCOBALAMIN
     Route: 065
  994. CYANOCOBALAMIN [Concomitant]
     Active Substance: CYANOCOBALAMIN
  995. CALCIUM GLUBIONATE [Concomitant]
     Active Substance: CALCIUM GLUBIONATE
     Route: 065
  996. CALCIUM GLUBIONATE [Concomitant]
     Active Substance: CALCIUM GLUBIONATE
  997. DEXAMETHASONE [Concomitant]
     Active Substance: DEXAMETHASONE
  998. DEXAMETHASONE [Concomitant]
     Active Substance: DEXAMETHASONE
  999. DOCONEXENT [Concomitant]
     Active Substance: DOCONEXENT
  1000. DOCONEXENT [Concomitant]
     Active Substance: DOCONEXENT
  1001. ELBASVIR [Concomitant]
     Active Substance: ELBASVIR
  1002. ELBASVIR [Concomitant]
     Active Substance: ELBASVIR
  1003. ICOSAPENT [Concomitant]
     Active Substance: ICOSAPENT
  1004. ICOSAPENT [Concomitant]
     Active Substance: ICOSAPENT
  1005. ERYTHROMYCIN [Concomitant]
     Active Substance: ERYTHROMYCIN
  1006. ERYTHROMYCIN [Concomitant]
     Active Substance: ERYTHROMYCIN
  1007. ETHINYL ESTRADIOL [Concomitant]
     Active Substance: ETHINYL ESTRADIOL
  1008. ETHINYL ESTRADIOL [Concomitant]
     Active Substance: ETHINYL ESTRADIOL
  1009. GLUCOSAMINE [Concomitant]
     Active Substance: GLUCOSAMINE
     Route: 065
  1010. GLUCOSAMINE [Concomitant]
     Active Substance: GLUCOSAMINE
  1011. GLUCOSAMINE [Concomitant]
     Active Substance: GLUCOSAMINE
  1012. GLUCOSAMINE [Concomitant]
     Active Substance: GLUCOSAMINE
  1013. IBUPROFEN [Concomitant]
     Active Substance: IBUPROFEN
     Route: 065
  1014. IBUPROFEN [Concomitant]
     Active Substance: IBUPROFEN
  1015. LEVOTHYROXINE SODIUM [Concomitant]
     Active Substance: LEVOTHYROXINE SODIUM
     Indication: Product used for unknown indication
     Route: 065
  1016. LEVOTHYROXINE SODIUM [Concomitant]
     Active Substance: LEVOTHYROXINE SODIUM
  1017. LISINOPRIL [Concomitant]
     Active Substance: LISINOPRIL
     Route: 065
  1018. LISINOPRIL [Concomitant]
     Active Substance: LISINOPRIL
  1019. LISINOPRIL [Concomitant]
     Active Substance: LISINOPRIL
     Route: 065
  1020. LISINOPRIL [Concomitant]
     Active Substance: LISINOPRIL
     Route: 048
  1021. LISINOPRIL [Concomitant]
     Active Substance: LISINOPRIL
  1022. LISINOPRIL [Concomitant]
     Active Substance: LISINOPRIL
  1023. LORAZEPAM [Concomitant]
     Active Substance: LORAZEPAM
     Route: 065
  1024. LORAZEPAM [Concomitant]
     Active Substance: LORAZEPAM
  1025. MORPHINE [Concomitant]
     Active Substance: MORPHINE
     Indication: Rheumatoid arthritis
     Route: 042
  1026. MORPHINE [Concomitant]
     Active Substance: MORPHINE
  1027. MELOXICAM [Concomitant]
     Active Substance: MELOXICAM
     Route: 065
  1028. MELOXICAM [Concomitant]
     Active Substance: MELOXICAM
  1029. PANTOPRAZOLE SODIUM [Concomitant]
     Active Substance: PANTOPRAZOLE SODIUM
  1030. PANTOPRAZOLE SODIUM [Concomitant]
     Active Substance: PANTOPRAZOLE SODIUM
  1031. PANTOPRAZOLE SODIUM [Concomitant]
     Active Substance: PANTOPRAZOLE SODIUM
  1032. PIROXICAM [Concomitant]
     Active Substance: PIROXICAM
     Route: 065
  1033. PIROXICAM [Concomitant]
     Active Substance: PIROXICAM
  1034. PREDNISOLONE [Concomitant]
     Active Substance: PREDNISOLONE
     Indication: Product used for unknown indication
     Route: 065
  1035. PREDNISOLONE [Concomitant]
     Active Substance: PREDNISOLONE
  1036. PREVACID [Concomitant]
     Active Substance: LANSOPRAZOLE
  1037. PREVACID [Concomitant]
     Active Substance: LANSOPRAZOLE
     Route: 065
  1038. QUETIAPINE [Concomitant]
     Active Substance: QUETIAPINE
     Route: 065
  1039. QUETIAPINE [Concomitant]
     Active Substance: QUETIAPINE
     Route: 065
  1040. QUETIAPINE [Concomitant]
     Active Substance: QUETIAPINE
     Route: 065
  1041. QUETIAPINE [Concomitant]
     Active Substance: QUETIAPINE
     Route: 065
  1042. QUETIAPINE [Concomitant]
     Active Substance: QUETIAPINE
  1043. QUETIAPINE [Concomitant]
     Active Substance: QUETIAPINE
  1044. QUETIAPINE [Concomitant]
     Active Substance: QUETIAPINE
  1045. QUETIAPINE [Concomitant]
     Active Substance: QUETIAPINE
  1046. RISEDRONATE SODIUM [Concomitant]
     Active Substance: RISEDRONATE SODIUM
     Route: 065
  1047. RISEDRONATE SODIUM [Concomitant]
     Active Substance: RISEDRONATE SODIUM
  1048. TEMAZEPAM [Concomitant]
     Active Substance: TEMAZEPAM
  1049. TEMAZEPAM [Concomitant]
     Active Substance: TEMAZEPAM
  1050. TRIMETHOPRIM [Concomitant]
     Active Substance: TRIMETHOPRIM
  1051. TRIMETHOPRIM [Concomitant]
     Active Substance: TRIMETHOPRIM
  1052. TYLENOL [Concomitant]
     Active Substance: ACETAMINOPHEN
  1053. TYLENOL [Concomitant]
     Active Substance: ACETAMINOPHEN
  1054. TYLENOL [Concomitant]
     Active Substance: ACETAMINOPHEN
  1055. TYLENOL [Concomitant]
     Active Substance: ACETAMINOPHEN
  1056. TYLENOL [Concomitant]
     Active Substance: ACETAMINOPHEN
  1057. TYLENOL [Concomitant]
     Active Substance: ACETAMINOPHEN
  1058. ALBUTEROL SULFATE [Concomitant]
     Active Substance: ALBUTEROL SULFATE
  1059. ALBUTEROL SULFATE [Concomitant]
     Active Substance: ALBUTEROL SULFATE
  1060. ZESTRIL [Concomitant]
     Active Substance: LISINOPRIL
  1061. ZESTRIL [Concomitant]
     Active Substance: LISINOPRIL
  1062. ZESTRIL [Concomitant]
     Active Substance: LISINOPRIL
  1063. ZOPICLONE [Concomitant]
     Active Substance: ZOPICLONE

REACTIONS (43)
  - Maternal exposure during pregnancy [Fatal]
  - Hypercholesterolaemia [Fatal]
  - Crohn^s disease [Fatal]
  - Condition aggravated [Fatal]
  - Deep vein thrombosis postoperative [Fatal]
  - Delirium [Fatal]
  - Dislocation of vertebra [Fatal]
  - Duodenal ulcer perforation [Fatal]
  - Epilepsy [Fatal]
  - Helicobacter infection [Fatal]
  - Pneumonia [Fatal]
  - Neoplasm progression [Fatal]
  - Hepatic cirrhosis [Fatal]
  - Road traffic accident [Fatal]
  - Wound infection [Fatal]
  - Blepharospasm [Fatal]
  - Drug ineffective [Fatal]
  - Off label use [Fatal]
  - Prescribed overdose [Not Recovered/Not Resolved]
  - Hypertension [Fatal]
  - Fibromyalgia [Fatal]
  - Infusion related reaction [Fatal]
  - Lower limb fracture [Fatal]
  - Lupus vulgaris [Fatal]
  - Peripheral venous disease [Fatal]
  - Pemphigus [Fatal]
  - Pericarditis [Fatal]
  - Rheumatoid arthritis [Fatal]
  - Facet joint syndrome [Fatal]
  - Type 2 diabetes mellitus [Fatal]
  - Upper respiratory tract infection [Fatal]
  - Psoriatic arthropathy [Fatal]
  - Overlap syndrome [Fatal]
  - Drug-induced liver injury [Fatal]
  - Contraindicated product administered [Fatal]
  - Osteoporosis [Fatal]
  - Gastrooesophageal reflux disease [Fatal]
  - Systemic lupus erythematosus [Fatal]
  - Osteoarthritis [Fatal]
  - Drug hypersensitivity [Fatal]
  - Retinitis [Fatal]
  - Incorrect route of product administration [Fatal]
  - Coeliac disease [Unknown]
